FAERS Safety Report 21036431 (Version 13)
Quarter: 2024Q3

REPORT INFORMATION
  Report Type: Spontaneous
  Country: CA (occurrence: CA)
  Receive Date: 20220702
  Receipt Date: 20240807
  Transmission Date: 20241016
  Serious: Yes (Congenital Anomaly)
  Sender: BRISTOL MYERS SQUIBB
  Company Number: CA-BRISTOL-MYERS SQUIBB COMPANY-2022-050444

PATIENT

DRUGS (924)
  1. ORENCIA [Suspect]
     Active Substance: ABATACEPT
     Indication: Product used for unknown indication
     Route: 064
  2. ORENCIA [Suspect]
     Active Substance: ABATACEPT
     Route: 064
  3. ORENCIA [Suspect]
     Active Substance: ABATACEPT
     Route: 064
  4. ORENCIA [Suspect]
     Active Substance: ABATACEPT
     Route: 064
  5. ORENCIA [Suspect]
     Active Substance: ABATACEPT
     Route: 064
  6. ORENCIA [Suspect]
     Active Substance: ABATACEPT
     Route: 064
  7. ORENCIA [Suspect]
     Active Substance: ABATACEPT
     Route: 064
  8. ORENCIA [Suspect]
     Active Substance: ABATACEPT
     Route: 064
  9. ORENCIA [Suspect]
     Active Substance: ABATACEPT
     Route: 064
  10. ORENCIA [Suspect]
     Active Substance: ABATACEPT
     Route: 064
  11. ORENCIA [Suspect]
     Active Substance: ABATACEPT
     Route: 064
  12. ORENCIA [Suspect]
     Active Substance: ABATACEPT
     Route: 064
  13. ORENCIA [Suspect]
     Active Substance: ABATACEPT
     Route: 064
  14. ORENCIA [Suspect]
     Active Substance: ABATACEPT
     Route: 064
  15. ORENCIA [Suspect]
     Active Substance: ABATACEPT
     Route: 064
  16. ORENCIA [Suspect]
     Active Substance: ABATACEPT
     Indication: Product used for unknown indication
     Route: 064
  17. ORENCIA [Suspect]
     Active Substance: ABATACEPT
     Route: 064
  18. ORENCIA [Suspect]
     Active Substance: ABATACEPT
     Route: 064
  19. ORENCIA [Suspect]
     Active Substance: ABATACEPT
     Route: 064
  20. ORENCIA [Suspect]
     Active Substance: ABATACEPT
     Route: 064
  21. ORENCIA [Suspect]
     Active Substance: ABATACEPT
     Route: 064
  22. ORENCIA [Suspect]
     Active Substance: ABATACEPT
     Route: 064
  23. ORENCIA [Suspect]
     Active Substance: ABATACEPT
     Route: 064
  24. ORENCIA [Suspect]
     Active Substance: ABATACEPT
     Route: 064
  25. ORENCIA [Suspect]
     Active Substance: ABATACEPT
     Route: 064
  26. ORENCIA [Suspect]
     Active Substance: ABATACEPT
     Route: 064
  27. ORENCIA [Suspect]
     Active Substance: ABATACEPT
     Route: 064
  28. ORENCIA [Suspect]
     Active Substance: ABATACEPT
     Route: 064
  29. ORENCIA [Suspect]
     Active Substance: ABATACEPT
     Route: 064
  30. ORENCIA [Suspect]
     Active Substance: ABATACEPT
     Route: 064
  31. ORENCIA [Suspect]
     Active Substance: ABATACEPT
     Route: 064
  32. ORENCIA [Suspect]
     Active Substance: ABATACEPT
     Route: 064
  33. ORENCIA [Suspect]
     Active Substance: ABATACEPT
     Route: 064
  34. ORENCIA [Suspect]
     Active Substance: ABATACEPT
     Route: 064
  35. ORENCIA [Suspect]
     Active Substance: ABATACEPT
     Route: 064
  36. ORENCIA [Suspect]
     Active Substance: ABATACEPT
     Indication: Product used for unknown indication
     Route: 064
  37. ORENCIA [Suspect]
     Active Substance: ABATACEPT
     Route: 064
  38. ORENCIA [Suspect]
     Active Substance: ABATACEPT
     Route: 064
  39. ORENCIA [Suspect]
     Active Substance: ABATACEPT
     Route: 064
  40. ORENCIA [Suspect]
     Active Substance: ABATACEPT
     Route: 064
  41. ORENCIA [Suspect]
     Active Substance: ABATACEPT
     Route: 064
  42. ORENCIA [Suspect]
     Active Substance: ABATACEPT
     Route: 064
  43. ORENCIA [Suspect]
     Active Substance: ABATACEPT
     Route: 064
  44. ORENCIA [Suspect]
     Active Substance: ABATACEPT
     Route: 064
  45. ORENCIA [Suspect]
     Active Substance: ABATACEPT
     Route: 064
  46. ORENCIA [Suspect]
     Active Substance: ABATACEPT
     Route: 064
  47. ORENCIA [Suspect]
     Active Substance: ABATACEPT
     Route: 064
  48. ORENCIA [Suspect]
     Active Substance: ABATACEPT
     Indication: Product used for unknown indication
     Route: 064
  49. ORENCIA [Suspect]
     Active Substance: ABATACEPT
     Route: 064
  50. ORENCIA [Suspect]
     Active Substance: ABATACEPT
     Route: 064
  51. ORENCIA [Suspect]
     Active Substance: ABATACEPT
     Route: 064
  52. ORENCIA [Suspect]
     Active Substance: ABATACEPT
     Route: 064
  53. ORENCIA [Suspect]
     Active Substance: ABATACEPT
     Route: 064
  54. ORENCIA [Suspect]
     Active Substance: ABATACEPT
     Route: 064
  55. ORENCIA [Suspect]
     Active Substance: ABATACEPT
     Route: 064
  56. ORENCIA [Suspect]
     Active Substance: ABATACEPT
     Route: 064
  57. ORENCIA [Suspect]
     Active Substance: ABATACEPT
     Route: 064
  58. TRIAMCINOLONE ACETONIDE [Suspect]
     Active Substance: TRIAMCINOLONE ACETONIDE
     Indication: Product used for unknown indication
     Dosage: SUSPENSION INTRA-ARTICULAR
     Route: 064
  59. TRIAMCINOLONE ACETONIDE [Suspect]
     Active Substance: TRIAMCINOLONE ACETONIDE
     Dosage: SUSPENSION INTRA-ARTICULAR
     Route: 064
  60. TRIAMCINOLONE ACETONIDE [Suspect]
     Active Substance: TRIAMCINOLONE ACETONIDE
     Dosage: SUSPENSION INTRA-ARTICULAR
     Route: 064
  61. ACETAMINOPHEN [Concomitant]
     Active Substance: ACETAMINOPHEN
     Indication: Product used for unknown indication
     Route: 064
  62. ACETAMINOPHEN [Concomitant]
     Active Substance: ACETAMINOPHEN
     Route: 064
  63. ACETAMINOPHEN [Concomitant]
     Active Substance: ACETAMINOPHEN
     Route: 064
  64. ACETAMINOPHEN [Concomitant]
     Active Substance: ACETAMINOPHEN
     Route: 064
  65. ACTEMRA [Concomitant]
     Active Substance: TOCILIZUMAB
     Indication: Product used for unknown indication
     Route: 064
  66. ACTEMRA [Concomitant]
     Active Substance: TOCILIZUMAB
     Route: 064
  67. ACTEMRA [Concomitant]
     Active Substance: TOCILIZUMAB
     Route: 064
  68. ACTEMRA [Concomitant]
     Active Substance: TOCILIZUMAB
     Route: 064
  69. ACTEMRA [Concomitant]
     Active Substance: TOCILIZUMAB
     Route: 064
  70. ACTEMRA [Concomitant]
     Active Substance: TOCILIZUMAB
     Route: 064
  71. ACTEMRA [Concomitant]
     Active Substance: TOCILIZUMAB
     Route: 064
  72. ACTEMRA [Concomitant]
     Active Substance: TOCILIZUMAB
     Route: 064
  73. ACTEMRA [Concomitant]
     Active Substance: TOCILIZUMAB
     Route: 064
  74. ACTEMRA [Concomitant]
     Active Substance: TOCILIZUMAB
     Route: 064
  75. ACTEMRA [Concomitant]
     Active Substance: TOCILIZUMAB
     Route: 064
  76. ACTEMRA [Concomitant]
     Active Substance: TOCILIZUMAB
     Route: 064
  77. ACTEMRA [Concomitant]
     Active Substance: TOCILIZUMAB
     Route: 064
  78. ACTEMRA [Concomitant]
     Active Substance: TOCILIZUMAB
     Route: 064
  79. ACTEMRA [Concomitant]
     Active Substance: TOCILIZUMAB
     Route: 064
  80. ACTEMRA [Concomitant]
     Active Substance: TOCILIZUMAB
     Route: 064
  81. ACTEMRA [Concomitant]
     Active Substance: TOCILIZUMAB
     Route: 064
  82. ACTEMRA [Concomitant]
     Active Substance: TOCILIZUMAB
     Route: 064
  83. ACTEMRA [Concomitant]
     Active Substance: TOCILIZUMAB
     Route: 064
  84. ACTEMRA [Concomitant]
     Active Substance: TOCILIZUMAB
     Route: 064
  85. ACTEMRA [Concomitant]
     Active Substance: TOCILIZUMAB
     Route: 064
  86. ACTEMRA [Concomitant]
     Active Substance: TOCILIZUMAB
     Route: 064
  87. ACTEMRA [Concomitant]
     Active Substance: TOCILIZUMAB
     Route: 064
  88. ACTEMRA [Concomitant]
     Active Substance: TOCILIZUMAB
     Route: 064
  89. ACTEMRA [Concomitant]
     Active Substance: TOCILIZUMAB
     Route: 064
  90. ACTEMRA [Concomitant]
     Active Substance: TOCILIZUMAB
     Route: 064
  91. ACTEMRA [Concomitant]
     Active Substance: TOCILIZUMAB
     Route: 064
  92. ACTEMRA [Concomitant]
     Active Substance: TOCILIZUMAB
     Route: 064
  93. ACTEMRA [Concomitant]
     Active Substance: TOCILIZUMAB
     Route: 064
  94. ACTEMRA [Concomitant]
     Active Substance: TOCILIZUMAB
     Route: 064
  95. ACTEMRA [Concomitant]
     Active Substance: TOCILIZUMAB
     Route: 064
  96. ACTEMRA [Concomitant]
     Active Substance: TOCILIZUMAB
     Route: 064
  97. ACTEMRA [Concomitant]
     Active Substance: TOCILIZUMAB
     Route: 064
  98. ACTEMRA [Concomitant]
     Active Substance: TOCILIZUMAB
     Route: 064
  99. ACTEMRA [Concomitant]
     Active Substance: TOCILIZUMAB
     Route: 064
  100. ACTEMRA [Concomitant]
     Active Substance: TOCILIZUMAB
     Route: 064
  101. ACTEMRA [Concomitant]
     Active Substance: TOCILIZUMAB
     Route: 064
  102. ACTEMRA [Concomitant]
     Active Substance: TOCILIZUMAB
     Route: 064
  103. ACTEMRA [Concomitant]
     Active Substance: TOCILIZUMAB
     Route: 064
  104. ACTEMRA [Concomitant]
     Active Substance: TOCILIZUMAB
     Route: 064
  105. ACTEMRA [Concomitant]
     Active Substance: TOCILIZUMAB
     Route: 064
  106. ACTEMRA [Concomitant]
     Active Substance: TOCILIZUMAB
     Route: 064
  107. ACTEMRA [Concomitant]
     Active Substance: TOCILIZUMAB
     Route: 064
  108. ACTEMRA [Concomitant]
     Active Substance: TOCILIZUMAB
     Route: 064
  109. ALENDRONATE SODIUM [Concomitant]
     Active Substance: ALENDRONATE SODIUM
     Indication: Product used for unknown indication
     Route: 064
  110. ALENDRONATE SODIUM [Concomitant]
     Active Substance: ALENDRONATE SODIUM
     Route: 064
  111. ALENDRONATE SODIUM [Concomitant]
     Active Substance: ALENDRONATE SODIUM
     Route: 064
  112. APREMILAST [Concomitant]
     Active Substance: APREMILAST
     Indication: Product used for unknown indication
     Route: 064
  113. APREMILAST [Concomitant]
     Active Substance: APREMILAST
     Route: 064
  114. APREMILAST [Concomitant]
     Active Substance: APREMILAST
     Route: 064
  115. APREMILAST [Concomitant]
     Active Substance: APREMILAST
     Route: 064
  116. ARAVA [Concomitant]
     Active Substance: LEFLUNOMIDE
     Indication: Product used for unknown indication
     Route: 064
  117. ARAVA [Concomitant]
     Active Substance: LEFLUNOMIDE
     Route: 064
  118. ARAVA [Concomitant]
     Active Substance: LEFLUNOMIDE
     Route: 064
  119. ARAVA [Concomitant]
     Active Substance: LEFLUNOMIDE
     Route: 064
  120. ARAVA [Concomitant]
     Active Substance: LEFLUNOMIDE
     Route: 064
  121. ARAVA [Concomitant]
     Active Substance: LEFLUNOMIDE
     Route: 064
  122. ARAVA [Concomitant]
     Active Substance: LEFLUNOMIDE
     Route: 064
  123. CETIRIZINE HYDROCHLORIDE [Concomitant]
     Active Substance: CETIRIZINE HYDROCHLORIDE
     Indication: Product used for unknown indication
     Route: 064
  124. CETIRIZINE HYDROCHLORIDE [Concomitant]
     Active Substance: CETIRIZINE HYDROCHLORIDE
     Route: 064
  125. CETIRIZINE HYDROCHLORIDE [Concomitant]
     Active Substance: CETIRIZINE HYDROCHLORIDE
     Route: 064
  126. CETIRIZINE HYDROCHLORIDE [Concomitant]
     Active Substance: CETIRIZINE HYDROCHLORIDE
     Route: 064
  127. CETIRIZINE HYDROCHLORIDE [Concomitant]
     Active Substance: CETIRIZINE HYDROCHLORIDE
     Route: 064
  128. CETIRIZINE HYDROCHLORIDE [Concomitant]
     Active Substance: CETIRIZINE HYDROCHLORIDE
     Route: 064
  129. CETIRIZINE HYDROCHLORIDE [Concomitant]
     Active Substance: CETIRIZINE HYDROCHLORIDE
     Route: 064
  130. CETIRIZINE HYDROCHLORIDE [Concomitant]
     Active Substance: CETIRIZINE HYDROCHLORIDE
     Route: 064
  131. CETIRIZINE HYDROCHLORIDE [Concomitant]
     Active Substance: CETIRIZINE HYDROCHLORIDE
     Route: 064
  132. CETIRIZINE HYDROCHLORIDE [Concomitant]
     Active Substance: CETIRIZINE HYDROCHLORIDE
     Route: 064
  133. CETIRIZINE HYDROCHLORIDE [Concomitant]
     Active Substance: CETIRIZINE HYDROCHLORIDE
     Route: 064
  134. CETIRIZINE HYDROCHLORIDE [Concomitant]
     Active Substance: CETIRIZINE HYDROCHLORIDE
     Route: 064
  135. CETIRIZINE HYDROCHLORIDE [Concomitant]
     Active Substance: CETIRIZINE HYDROCHLORIDE
     Route: 064
  136. CETIRIZINE HYDROCHLORIDE [Concomitant]
     Active Substance: CETIRIZINE HYDROCHLORIDE
     Route: 064
  137. CETIRIZINE HYDROCHLORIDE [Concomitant]
     Active Substance: CETIRIZINE HYDROCHLORIDE
     Route: 064
  138. CETIRIZINE HYDROCHLORIDE [Concomitant]
     Active Substance: CETIRIZINE HYDROCHLORIDE
     Route: 064
  139. CETIRIZINE HYDROCHLORIDE [Concomitant]
     Active Substance: CETIRIZINE HYDROCHLORIDE
     Route: 064
  140. CETIRIZINE HYDROCHLORIDE [Concomitant]
     Active Substance: CETIRIZINE HYDROCHLORIDE
     Route: 064
  141. CETIRIZINE HYDROCHLORIDE [Concomitant]
     Active Substance: CETIRIZINE HYDROCHLORIDE
     Route: 064
  142. CETIRIZINE HYDROCHLORIDE [Concomitant]
     Active Substance: CETIRIZINE HYDROCHLORIDE
     Route: 064
  143. CETIRIZINE HYDROCHLORIDE [Concomitant]
     Active Substance: CETIRIZINE HYDROCHLORIDE
     Route: 064
  144. CETIRIZINE HYDROCHLORIDE [Concomitant]
     Active Substance: CETIRIZINE HYDROCHLORIDE
     Route: 064
  145. CETIRIZINE HYDROCHLORIDE [Concomitant]
     Active Substance: CETIRIZINE HYDROCHLORIDE
     Route: 064
  146. CETIRIZINE HYDROCHLORIDE [Concomitant]
     Active Substance: CETIRIZINE HYDROCHLORIDE
     Route: 064
  147. CETIRIZINE HYDROCHLORIDE [Concomitant]
     Active Substance: CETIRIZINE HYDROCHLORIDE
     Route: 064
  148. CETIRIZINE HYDROCHLORIDE [Concomitant]
     Active Substance: CETIRIZINE HYDROCHLORIDE
     Route: 064
  149. CETIRIZINE HYDROCHLORIDE [Concomitant]
     Active Substance: CETIRIZINE HYDROCHLORIDE
     Route: 064
  150. CETIRIZINE HYDROCHLORIDE [Concomitant]
     Active Substance: CETIRIZINE HYDROCHLORIDE
     Route: 064
  151. CETIRIZINE HYDROCHLORIDE [Concomitant]
     Active Substance: CETIRIZINE HYDROCHLORIDE
     Route: 064
  152. CETIRIZINE HYDROCHLORIDE [Concomitant]
     Active Substance: CETIRIZINE HYDROCHLORIDE
     Route: 064
  153. CIMZIA [Concomitant]
     Active Substance: CERTOLIZUMAB PEGOL
     Indication: Product used for unknown indication
     Route: 064
  154. CIMZIA [Concomitant]
     Active Substance: CERTOLIZUMAB PEGOL
     Route: 064
  155. CIMZIA [Concomitant]
     Active Substance: CERTOLIZUMAB PEGOL
     Route: 064
  156. CIMZIA [Concomitant]
     Active Substance: CERTOLIZUMAB PEGOL
     Route: 064
  157. CIMZIA [Concomitant]
     Active Substance: CERTOLIZUMAB PEGOL
     Route: 064
  158. CIMZIA [Concomitant]
     Active Substance: CERTOLIZUMAB PEGOL
     Route: 064
  159. CIMZIA [Concomitant]
     Active Substance: CERTOLIZUMAB PEGOL
     Route: 064
  160. CIMZIA [Concomitant]
     Active Substance: CERTOLIZUMAB PEGOL
     Route: 064
  161. CIMZIA [Concomitant]
     Active Substance: CERTOLIZUMAB PEGOL
     Route: 064
  162. CIMZIA [Concomitant]
     Active Substance: CERTOLIZUMAB PEGOL
     Route: 064
  163. CIMZIA [Concomitant]
     Active Substance: CERTOLIZUMAB PEGOL
     Route: 064
  164. CIMZIA [Concomitant]
     Active Substance: CERTOLIZUMAB PEGOL
     Route: 064
  165. CORTISONE ACETATE [Concomitant]
     Active Substance: CORTISONE ACETATE
     Indication: Product used for unknown indication
     Route: 064
  166. CORTISONE ACETATE [Concomitant]
     Active Substance: CORTISONE ACETATE
     Route: 064
  167. CORTISONE ACETATE [Concomitant]
     Active Substance: CORTISONE ACETATE
     Route: 064
  168. CORTISONE ACETATE [Concomitant]
     Active Substance: CORTISONE ACETATE
     Route: 064
  169. CORTISONE ACETATE [Concomitant]
     Active Substance: CORTISONE ACETATE
     Route: 064
  170. CORTISONE ACETATE [Concomitant]
     Active Substance: CORTISONE ACETATE
     Route: 064
  171. CORTISONE ACETATE [Concomitant]
     Active Substance: CORTISONE ACETATE
     Route: 064
  172. CORTISONE ACETATE [Concomitant]
     Active Substance: CORTISONE ACETATE
     Route: 064
  173. CORTISONE ACETATE [Concomitant]
     Active Substance: CORTISONE ACETATE
     Route: 064
  174. CORTISONE ACETATE [Concomitant]
     Active Substance: CORTISONE ACETATE
     Route: 064
  175. CORTISONE ACETATE [Concomitant]
     Active Substance: CORTISONE ACETATE
     Route: 064
  176. CORTISONE ACETATE [Concomitant]
     Active Substance: CORTISONE ACETATE
     Route: 064
  177. CORTISONE ACETATE [Concomitant]
     Active Substance: CORTISONE ACETATE
     Route: 064
  178. COSENTYX [Concomitant]
     Active Substance: SECUKINUMAB
     Indication: Product used for unknown indication
     Route: 064
  179. COSENTYX [Concomitant]
     Active Substance: SECUKINUMAB
     Route: 064
  180. COSENTYX [Concomitant]
     Active Substance: SECUKINUMAB
     Route: 064
  181. COSENTYX [Concomitant]
     Active Substance: SECUKINUMAB
     Route: 064
  182. COSENTYX [Concomitant]
     Active Substance: SECUKINUMAB
     Route: 064
  183. DESOXIMETASONE [Concomitant]
     Active Substance: DESOXIMETASONE
     Indication: Product used for unknown indication
     Route: 064
  184. DESOXIMETASONE [Concomitant]
     Active Substance: DESOXIMETASONE
     Route: 064
  185. DESOXIMETASONE [Concomitant]
     Active Substance: DESOXIMETASONE
     Route: 064
  186. DESOXIMETASONE [Concomitant]
     Active Substance: DESOXIMETASONE
     Route: 064
  187. DESOXIMETASONE [Concomitant]
     Active Substance: DESOXIMETASONE
     Route: 064
  188. DESOXIMETASONE [Concomitant]
     Active Substance: DESOXIMETASONE
     Route: 064
  189. DESOXIMETASONE [Concomitant]
     Active Substance: DESOXIMETASONE
     Route: 064
  190. DESOXIMETASONE [Concomitant]
     Active Substance: DESOXIMETASONE
     Route: 064
  191. DESOXIMETASONE [Concomitant]
     Active Substance: DESOXIMETASONE
     Route: 064
  192. DESOXIMETASONE [Concomitant]
     Active Substance: DESOXIMETASONE
     Route: 064
  193. DESOXIMETASONE [Concomitant]
     Active Substance: DESOXIMETASONE
     Route: 064
  194. DESOXIMETASONE [Concomitant]
     Active Substance: DESOXIMETASONE
     Route: 064
  195. DESOXIMETASONE [Concomitant]
     Active Substance: DESOXIMETASONE
     Route: 064
  196. DESOXIMETASONE [Concomitant]
     Active Substance: DESOXIMETASONE
     Route: 064
  197. DESOXIMETASONE [Concomitant]
     Active Substance: DESOXIMETASONE
     Route: 064
  198. DESOXIMETASONE [Concomitant]
     Active Substance: DESOXIMETASONE
     Route: 064
  199. DESOXIMETASONE [Concomitant]
     Active Substance: DESOXIMETASONE
     Route: 064
  200. DICLOFENAC SODIUM [Concomitant]
     Active Substance: DICLOFENAC\DICLOFENAC SODIUM
     Indication: Product used for unknown indication
     Route: 064
  201. DICLOFENAC SODIUM [Concomitant]
     Active Substance: DICLOFENAC\DICLOFENAC SODIUM
     Route: 064
  202. DICLOFENAC SODIUM [Concomitant]
     Active Substance: DICLOFENAC\DICLOFENAC SODIUM
     Route: 064
  203. ENBREL [Concomitant]
     Active Substance: BENZYL ALCOHOL\ETANERCEPT
     Indication: Product used for unknown indication
     Route: 064
  204. ENBREL [Concomitant]
     Active Substance: BENZYL ALCOHOL\ETANERCEPT
     Route: 064
  205. ENBREL [Concomitant]
     Active Substance: BENZYL ALCOHOL\ETANERCEPT
     Route: 064
  206. ENBREL [Concomitant]
     Active Substance: BENZYL ALCOHOL\ETANERCEPT
     Route: 064
  207. ENBREL [Concomitant]
     Active Substance: BENZYL ALCOHOL\ETANERCEPT
     Route: 064
  208. ENBREL [Concomitant]
     Active Substance: BENZYL ALCOHOL\ETANERCEPT
     Route: 064
  209. ENBREL [Concomitant]
     Active Substance: BENZYL ALCOHOL\ETANERCEPT
     Route: 064
  210. ENBREL [Concomitant]
     Active Substance: BENZYL ALCOHOL\ETANERCEPT
     Route: 064
  211. ENBREL [Concomitant]
     Active Substance: BENZYL ALCOHOL\ETANERCEPT
     Route: 064
  212. ENBREL [Concomitant]
     Active Substance: BENZYL ALCOHOL\ETANERCEPT
     Route: 064
  213. ENBREL [Concomitant]
     Active Substance: BENZYL ALCOHOL\ETANERCEPT
     Route: 064
  214. ENBREL [Concomitant]
     Active Substance: BENZYL ALCOHOL\ETANERCEPT
     Route: 064
  215. ENBREL [Concomitant]
     Active Substance: BENZYL ALCOHOL\ETANERCEPT
     Route: 064
  216. ERELZI [Concomitant]
     Active Substance: ETANERCEPT-SZZS
     Indication: Product used for unknown indication
     Route: 064
  217. ERELZI [Concomitant]
     Active Substance: ETANERCEPT-SZZS
     Route: 064
  218. ERELZI [Concomitant]
     Active Substance: ETANERCEPT-SZZS
     Route: 064
  219. ERELZI [Concomitant]
     Active Substance: ETANERCEPT-SZZS
     Route: 064
  220. ERELZI [Concomitant]
     Active Substance: ETANERCEPT-SZZS
     Route: 064
  221. ERELZI [Concomitant]
     Active Substance: ETANERCEPT-SZZS
     Route: 064
  222. ERELZI [Concomitant]
     Active Substance: ETANERCEPT-SZZS
     Route: 064
  223. ERELZI [Concomitant]
     Active Substance: ETANERCEPT-SZZS
     Route: 064
  224. FLUMETHASONE PIVALATE [Concomitant]
     Active Substance: FLUMETHASONE PIVALATE
     Indication: Product used for unknown indication
     Route: 064
  225. FLUMETHASONE PIVALATE [Concomitant]
     Active Substance: FLUMETHASONE PIVALATE
     Route: 064
  226. FLUMETHASONE PIVALATE [Concomitant]
     Active Substance: FLUMETHASONE PIVALATE
     Route: 064
  227. FLUMETHASONE PIVALATE [Concomitant]
     Active Substance: FLUMETHASONE PIVALATE
     Route: 064
  228. FLUMETHASONE PIVALATE [Concomitant]
     Active Substance: FLUMETHASONE PIVALATE
     Route: 064
  229. FLUMETHASONE PIVALATE [Concomitant]
     Active Substance: FLUMETHASONE PIVALATE
     Route: 064
  230. FOLIC ACID [Concomitant]
     Active Substance: FOLIC ACID
     Indication: Product used for unknown indication
     Route: 064
  231. FOLIC ACID [Concomitant]
     Active Substance: FOLIC ACID
     Route: 064
  232. FOLIC ACID [Concomitant]
     Active Substance: FOLIC ACID
     Route: 064
  233. FOLIC ACID [Concomitant]
     Active Substance: FOLIC ACID
     Route: 064
  234. FOLIC ACID [Concomitant]
     Active Substance: FOLIC ACID
     Route: 064
  235. FOLIC ACID [Concomitant]
     Active Substance: FOLIC ACID
     Route: 064
  236. FOLIC ACID [Concomitant]
     Active Substance: FOLIC ACID
     Route: 064
  237. FOLIC ACID [Concomitant]
     Active Substance: FOLIC ACID
     Route: 064
  238. FOLIC ACID [Concomitant]
     Active Substance: FOLIC ACID
     Route: 064
  239. FOLIC ACID [Concomitant]
     Active Substance: FOLIC ACID
     Route: 064
  240. FOLIC ACID [Concomitant]
     Active Substance: FOLIC ACID
     Route: 064
  241. FOLIC ACID [Concomitant]
     Active Substance: FOLIC ACID
     Route: 064
  242. FOLIC ACID [Concomitant]
     Active Substance: FOLIC ACID
     Route: 064
  243. FOLIC ACID [Concomitant]
     Active Substance: FOLIC ACID
     Route: 064
  244. FOLIC ACID [Concomitant]
     Active Substance: FOLIC ACID
     Route: 064
  245. FOLIC ACID [Concomitant]
     Active Substance: FOLIC ACID
     Route: 064
  246. FOLIC ACID [Concomitant]
     Active Substance: FOLIC ACID
     Route: 064
  247. FOLIC ACID [Concomitant]
     Active Substance: FOLIC ACID
     Route: 064
  248. FOLIC ACID [Concomitant]
     Active Substance: FOLIC ACID
     Route: 064
  249. FOLIC ACID [Concomitant]
     Active Substance: FOLIC ACID
     Route: 064
  250. FOLIC ACID [Concomitant]
     Active Substance: FOLIC ACID
     Route: 064
  251. FOLIC ACID [Concomitant]
     Active Substance: FOLIC ACID
     Route: 064
  252. FOLIC ACID [Concomitant]
     Active Substance: FOLIC ACID
     Route: 064
  253. FOLIC ACID [Concomitant]
     Active Substance: FOLIC ACID
     Route: 064
  254. FOLIC ACID [Concomitant]
     Active Substance: FOLIC ACID
     Route: 064
  255. FOLIC ACID [Concomitant]
     Active Substance: FOLIC ACID
     Route: 064
  256. FOLIC ACID [Concomitant]
     Active Substance: FOLIC ACID
     Route: 064
  257. FOLIC ACID [Concomitant]
     Active Substance: FOLIC ACID
     Route: 064
  258. FOLIC ACID [Concomitant]
     Active Substance: FOLIC ACID
     Route: 064
  259. FOLIC ACID [Concomitant]
     Active Substance: FOLIC ACID
     Route: 064
  260. GOLD [Concomitant]
     Active Substance: GOLD
     Indication: Product used for unknown indication
     Route: 064
  261. GOLD [Concomitant]
     Active Substance: GOLD
     Route: 064
  262. FOSAMAX [Concomitant]
     Active Substance: ALENDRONATE SODIUM
     Indication: Product used for unknown indication
     Route: 064
  263. FOSAMAX [Concomitant]
     Active Substance: ALENDRONATE SODIUM
     Route: 064
  264. FOSAMAX [Concomitant]
     Active Substance: ALENDRONATE SODIUM
     Route: 064
  265. FOSAMAX [Concomitant]
     Active Substance: ALENDRONATE SODIUM
     Route: 064
  266. FOSAMAX [Concomitant]
     Active Substance: ALENDRONATE SODIUM
     Route: 064
  267. FOSAMAX [Concomitant]
     Active Substance: ALENDRONATE SODIUM
     Route: 064
  268. GOLD SODIUM THIOMALATE [Concomitant]
     Active Substance: GOLD SODIUM THIOMALATE
     Indication: Product used for unknown indication
     Route: 064
  269. GOLD SODIUM THIOMALATE [Concomitant]
     Active Substance: GOLD SODIUM THIOMALATE
     Route: 064
  270. HUMIRA [Concomitant]
     Active Substance: ADALIMUMAB
     Indication: Product used for unknown indication
     Route: 064
  271. HUMIRA [Concomitant]
     Active Substance: ADALIMUMAB
     Route: 064
  272. HUMIRA [Concomitant]
     Active Substance: ADALIMUMAB
     Route: 064
  273. HUMIRA [Concomitant]
     Active Substance: ADALIMUMAB
     Route: 064
  274. HUMIRA [Concomitant]
     Active Substance: ADALIMUMAB
     Route: 064
  275. HUMIRA [Concomitant]
     Active Substance: ADALIMUMAB
     Route: 064
  276. HUMIRA [Concomitant]
     Active Substance: ADALIMUMAB
     Route: 064
  277. HUMIRA [Concomitant]
     Active Substance: ADALIMUMAB
     Route: 064
  278. HUMIRA [Concomitant]
     Active Substance: ADALIMUMAB
     Route: 064
  279. HUMIRA [Concomitant]
     Active Substance: ADALIMUMAB
     Route: 064
  280. HUMIRA [Concomitant]
     Active Substance: ADALIMUMAB
     Route: 064
  281. HUMIRA [Concomitant]
     Active Substance: ADALIMUMAB
     Route: 064
  282. KEVZARA [Concomitant]
     Active Substance: SARILUMAB
     Indication: Product used for unknown indication
     Route: 064
  283. LEFLUNOMIDE [Concomitant]
     Active Substance: LEFLUNOMIDE
     Indication: Product used for unknown indication
     Route: 064
  284. LEFLUNOMIDE [Concomitant]
     Active Substance: LEFLUNOMIDE
     Route: 064
  285. LEFLUNOMIDE [Concomitant]
     Active Substance: LEFLUNOMIDE
     Route: 064
  286. LEFLUNOMIDE [Concomitant]
     Active Substance: LEFLUNOMIDE
     Route: 064
  287. LEFLUNOMIDE [Concomitant]
     Active Substance: LEFLUNOMIDE
     Route: 064
  288. LEFLUNOMIDE [Concomitant]
     Active Substance: LEFLUNOMIDE
     Route: 064
  289. LEFLUNOMIDE [Concomitant]
     Active Substance: LEFLUNOMIDE
     Route: 064
  290. LEFLUNOMIDE [Concomitant]
     Active Substance: LEFLUNOMIDE
     Route: 064
  291. LEFLUNOMIDE [Concomitant]
     Active Substance: LEFLUNOMIDE
     Route: 064
  292. LEFLUNOMIDE [Concomitant]
     Active Substance: LEFLUNOMIDE
     Route: 064
  293. LEFLUNOMIDE [Concomitant]
     Active Substance: LEFLUNOMIDE
     Route: 064
  294. LEFLUNOMIDE [Concomitant]
     Active Substance: LEFLUNOMIDE
     Route: 064
  295. LEFLUNOMIDE [Concomitant]
     Active Substance: LEFLUNOMIDE
     Route: 064
  296. LEFLUNOMIDE [Concomitant]
     Active Substance: LEFLUNOMIDE
     Route: 064
  297. METHOTREXATE [Concomitant]
     Active Substance: METHOTREXATE
     Indication: Product used for unknown indication
     Route: 064
  298. METHOTREXATE [Concomitant]
     Active Substance: METHOTREXATE
     Route: 064
  299. METHOTREXATE [Concomitant]
     Active Substance: METHOTREXATE
     Route: 064
  300. METHOTREXATE [Concomitant]
     Active Substance: METHOTREXATE
     Route: 064
  301. METHOTREXATE [Concomitant]
     Active Substance: METHOTREXATE
     Route: 064
  302. METHOTREXATE [Concomitant]
     Active Substance: METHOTREXATE
     Route: 064
  303. METHOTREXATE [Concomitant]
     Active Substance: METHOTREXATE
     Route: 064
  304. METHOTREXATE [Concomitant]
     Active Substance: METHOTREXATE
     Route: 064
  305. METHOTREXATE [Concomitant]
     Active Substance: METHOTREXATE
     Route: 064
  306. METHOTREXATE [Concomitant]
     Active Substance: METHOTREXATE
     Route: 064
  307. METHOTREXATE [Concomitant]
     Active Substance: METHOTREXATE
     Route: 064
  308. METHOTREXATE [Concomitant]
     Active Substance: METHOTREXATE
     Route: 064
  309. METHOTREXATE [Concomitant]
     Active Substance: METHOTREXATE
     Route: 064
  310. METHOTREXATE [Concomitant]
     Active Substance: METHOTREXATE
     Route: 064
  311. METHOTREXATE [Concomitant]
     Active Substance: METHOTREXATE
     Route: 064
  312. METHOTREXATE [Concomitant]
     Active Substance: METHOTREXATE
     Route: 064
  313. METHOTREXATE [Concomitant]
     Active Substance: METHOTREXATE
     Route: 064
  314. METHOTREXATE [Concomitant]
     Active Substance: METHOTREXATE
     Route: 064
  315. METHOTREXATE [Concomitant]
     Active Substance: METHOTREXATE
     Route: 064
  316. METHOTREXATE [Concomitant]
     Active Substance: METHOTREXATE
     Route: 064
  317. METHOTREXATE [Concomitant]
     Active Substance: METHOTREXATE
     Route: 064
  318. METHOTREXATE [Concomitant]
     Active Substance: METHOTREXATE
     Route: 064
  319. METHOTREXATE [Concomitant]
     Active Substance: METHOTREXATE
     Route: 064
  320. METHOTREXATE [Concomitant]
     Active Substance: METHOTREXATE
     Route: 064
  321. METHOTREXATE [Concomitant]
     Active Substance: METHOTREXATE
     Route: 064
  322. METHOTREXATE [Concomitant]
     Active Substance: METHOTREXATE
     Route: 064
  323. METHOTREXATE [Concomitant]
     Active Substance: METHOTREXATE
     Route: 064
  324. METHOTREXATE [Concomitant]
     Active Substance: METHOTREXATE
     Route: 064
  325. METHOTREXATE [Concomitant]
     Active Substance: METHOTREXATE
     Route: 064
  326. METHOTREXATE [Concomitant]
     Active Substance: METHOTREXATE
     Route: 064
  327. METHOTREXATE [Concomitant]
     Active Substance: METHOTREXATE
     Route: 064
  328. METHOTREXATE [Concomitant]
     Active Substance: METHOTREXATE
     Route: 064
  329. METHOTREXATE [Concomitant]
     Active Substance: METHOTREXATE
     Route: 064
  330. METHOTREXATE [Concomitant]
     Active Substance: METHOTREXATE
     Route: 064
  331. METHOTREXATE [Concomitant]
     Active Substance: METHOTREXATE
     Route: 064
  332. METHOTREXATE [Concomitant]
     Active Substance: METHOTREXATE
     Route: 064
  333. METHOTREXATE [Concomitant]
     Active Substance: METHOTREXATE
     Route: 064
  334. METHOTREXATE [Concomitant]
     Active Substance: METHOTREXATE
     Route: 064
  335. METHOTREXATE [Concomitant]
     Active Substance: METHOTREXATE
     Route: 064
  336. METHOTREXATE [Concomitant]
     Active Substance: METHOTREXATE
     Route: 064
  337. METHOTREXATE [Concomitant]
     Active Substance: METHOTREXATE
     Route: 064
  338. METHOTREXATE [Concomitant]
     Active Substance: METHOTREXATE
     Route: 064
  339. METHOTREXATE [Concomitant]
     Active Substance: METHOTREXATE
     Route: 064
  340. METHOTREXATE [Concomitant]
     Active Substance: METHOTREXATE
     Route: 064
  341. METHOTREXATE [Concomitant]
     Active Substance: METHOTREXATE
     Route: 064
  342. METHOTREXATE [Concomitant]
     Active Substance: METHOTREXATE
     Route: 064
  343. METHOTREXATE [Concomitant]
     Active Substance: METHOTREXATE
     Route: 064
  344. METHOTREXATE [Concomitant]
     Active Substance: METHOTREXATE
     Route: 064
  345. METHOTREXATE [Concomitant]
     Active Substance: METHOTREXATE
     Route: 064
  346. METHOTREXATE [Concomitant]
     Active Substance: METHOTREXATE
     Route: 064
  347. METHOTREXATE [Concomitant]
     Active Substance: METHOTREXATE
     Route: 064
  348. METHOTREXATE [Concomitant]
     Active Substance: METHOTREXATE
     Route: 064
  349. METHOTREXATE [Concomitant]
     Active Substance: METHOTREXATE
     Route: 064
  350. PREDNISONE [Concomitant]
     Active Substance: PREDNISONE
     Indication: Product used for unknown indication
     Route: 064
  351. PREDNISONE [Concomitant]
     Active Substance: PREDNISONE
     Route: 064
  352. PREDNISONE [Concomitant]
     Active Substance: PREDNISONE
     Route: 064
  353. PREDNISONE [Concomitant]
     Active Substance: PREDNISONE
     Route: 064
  354. PREDNISONE [Concomitant]
     Active Substance: PREDNISONE
     Route: 064
  355. PREDNISONE [Concomitant]
     Active Substance: PREDNISONE
     Route: 064
  356. PREDNISONE [Concomitant]
     Active Substance: PREDNISONE
     Route: 064
  357. PREDNISONE [Concomitant]
     Active Substance: PREDNISONE
     Route: 064
  358. PREDNISONE [Concomitant]
     Active Substance: PREDNISONE
     Route: 064
  359. PREDNISONE [Concomitant]
     Active Substance: PREDNISONE
     Route: 064
  360. PREDNISONE [Concomitant]
     Active Substance: PREDNISONE
     Route: 064
  361. PREDNISONE [Concomitant]
     Active Substance: PREDNISONE
     Route: 064
  362. PREDNISONE [Concomitant]
     Active Substance: PREDNISONE
     Route: 064
  363. PREDNISONE [Concomitant]
     Active Substance: PREDNISONE
     Route: 064
  364. PREDNISONE [Concomitant]
     Active Substance: PREDNISONE
     Route: 064
  365. PREDNISONE [Concomitant]
     Active Substance: PREDNISONE
     Route: 064
  366. PREDNISONE [Concomitant]
     Active Substance: PREDNISONE
     Route: 064
  367. PREDNISONE [Concomitant]
     Active Substance: PREDNISONE
     Route: 064
  368. PREDNISONE [Concomitant]
     Active Substance: PREDNISONE
     Route: 064
  369. PREDNISONE [Concomitant]
     Active Substance: PREDNISONE
     Route: 064
  370. PREDNISONE [Concomitant]
     Active Substance: PREDNISONE
     Route: 064
  371. PREDNISONE [Concomitant]
     Active Substance: PREDNISONE
     Route: 064
  372. PREDNISONE [Concomitant]
     Active Substance: PREDNISONE
     Route: 064
  373. PREDNISONE [Concomitant]
     Active Substance: PREDNISONE
     Route: 064
  374. PREDNISONE [Concomitant]
     Active Substance: PREDNISONE
     Route: 064
  375. PREDNISONE [Concomitant]
     Active Substance: PREDNISONE
     Route: 064
  376. PREDNISONE [Concomitant]
     Active Substance: PREDNISONE
     Route: 064
  377. PREDNISONE [Concomitant]
     Active Substance: PREDNISONE
     Route: 064
  378. PREDNISONE [Concomitant]
     Active Substance: PREDNISONE
     Route: 064
  379. PREDNISONE [Concomitant]
     Active Substance: PREDNISONE
     Route: 064
  380. PSEUDOEPHEDRINE HYDROCHLORIDE [Concomitant]
     Active Substance: PSEUDOEPHEDRINE HYDROCHLORIDE
     Indication: Product used for unknown indication
     Route: 064
  381. PSEUDOEPHEDRINE HYDROCHLORIDE [Concomitant]
     Active Substance: PSEUDOEPHEDRINE HYDROCHLORIDE
     Route: 064
  382. PSEUDOEPHEDRINE HYDROCHLORIDE [Concomitant]
     Active Substance: PSEUDOEPHEDRINE HYDROCHLORIDE
     Route: 064
  383. PSEUDOEPHEDRINE HYDROCHLORIDE [Concomitant]
     Active Substance: PSEUDOEPHEDRINE HYDROCHLORIDE
     Route: 064
  384. PSEUDOEPHEDRINE HYDROCHLORIDE [Concomitant]
     Active Substance: PSEUDOEPHEDRINE HYDROCHLORIDE
     Route: 064
  385. PSEUDOEPHEDRINE HYDROCHLORIDE [Concomitant]
     Active Substance: PSEUDOEPHEDRINE HYDROCHLORIDE
     Route: 064
  386. PSEUDOEPHEDRINE HYDROCHLORIDE [Concomitant]
     Active Substance: PSEUDOEPHEDRINE HYDROCHLORIDE
     Route: 064
  387. PSEUDOEPHEDRINE HYDROCHLORIDE [Concomitant]
     Active Substance: PSEUDOEPHEDRINE HYDROCHLORIDE
     Route: 064
  388. REMICADE [Concomitant]
     Active Substance: INFLIXIMAB
     Indication: Product used for unknown indication
     Route: 064
  389. REMICADE [Concomitant]
     Active Substance: INFLIXIMAB
     Route: 064
  390. REMICADE [Concomitant]
     Active Substance: INFLIXIMAB
     Route: 064
  391. REMICADE [Concomitant]
     Active Substance: INFLIXIMAB
     Route: 064
  392. REMICADE [Concomitant]
     Active Substance: INFLIXIMAB
     Route: 064
  393. REMICADE [Concomitant]
     Active Substance: INFLIXIMAB
     Route: 064
  394. REMICADE [Concomitant]
     Active Substance: INFLIXIMAB
     Route: 064
  395. REMICADE [Concomitant]
     Active Substance: INFLIXIMAB
     Route: 064
  396. REMICADE [Concomitant]
     Active Substance: INFLIXIMAB
     Route: 064
  397. REMICADE [Concomitant]
     Active Substance: INFLIXIMAB
     Dosage: POWDER FOR SOLUTION FOR INJECTION/ INFUSION
     Route: 064
  398. REMICADE [Concomitant]
     Active Substance: INFLIXIMAB
     Dosage: POWDER FOR SOLUTION FOR INJECTION/ INFUSION
     Route: 064
  399. REMICADE [Concomitant]
     Active Substance: INFLIXIMAB
     Dosage: POWDER FOR SOLUTION FOR INJECTION/ INFUSION
     Route: 064
  400. REMICADE [Concomitant]
     Active Substance: INFLIXIMAB
     Route: 064
  401. REMICADE [Concomitant]
     Active Substance: INFLIXIMAB
     Route: 064
  402. RITUXIMAB [Concomitant]
     Active Substance: RITUXIMAB
     Indication: Product used for unknown indication
     Route: 064
  403. RITUXIMAB [Concomitant]
     Active Substance: RITUXIMAB
     Route: 064
  404. RITUXIMAB [Concomitant]
     Active Substance: RITUXIMAB
     Route: 064
  405. RITUXIMAB [Concomitant]
     Active Substance: RITUXIMAB
     Route: 064
  406. RITUXIMAB [Concomitant]
     Active Substance: RITUXIMAB
     Route: 064
  407. RITUXIMAB [Concomitant]
     Active Substance: RITUXIMAB
     Route: 064
  408. RITUXIMAB [Concomitant]
     Active Substance: RITUXIMAB
     Route: 064
  409. RITUXIMAB [Concomitant]
     Active Substance: RITUXIMAB
     Route: 064
  410. RITUXIMAB [Concomitant]
     Active Substance: RITUXIMAB
     Route: 064
  411. RITUXIMAB [Concomitant]
     Active Substance: RITUXIMAB
     Route: 064
  412. RITUXIMAB [Concomitant]
     Active Substance: RITUXIMAB
     Route: 064
  413. RITUXIMAB [Concomitant]
     Active Substance: RITUXIMAB
     Route: 064
  414. RITUXIMAB [Concomitant]
     Active Substance: RITUXIMAB
     Route: 064
  415. RITUXIMAB [Concomitant]
     Active Substance: RITUXIMAB
     Route: 064
  416. RITUXIMAB [Concomitant]
     Active Substance: RITUXIMAB
     Route: 064
  417. RITUXIMAB [Concomitant]
     Active Substance: RITUXIMAB
     Route: 064
  418. RITUXIMAB [Concomitant]
     Active Substance: RITUXIMAB
     Route: 064
  419. RITUXIMAB [Concomitant]
     Active Substance: RITUXIMAB
     Route: 064
  420. RITUXIMAB [Concomitant]
     Active Substance: RITUXIMAB
     Route: 064
  421. RITUXIMAB [Concomitant]
     Active Substance: RITUXIMAB
     Route: 064
  422. RITUXIMAB [Concomitant]
     Active Substance: RITUXIMAB
     Route: 064
  423. RITUXIMAB [Concomitant]
     Active Substance: RITUXIMAB
     Route: 064
  424. RITUXIMAB [Concomitant]
     Active Substance: RITUXIMAB
     Route: 064
  425. RITUXIMAB [Concomitant]
     Active Substance: RITUXIMAB
     Route: 064
  426. RITUXIMAB [Concomitant]
     Active Substance: RITUXIMAB
     Route: 064
  427. RITUXIMAB [Concomitant]
     Active Substance: RITUXIMAB
     Route: 064
  428. RITUXIMAB [Concomitant]
     Active Substance: RITUXIMAB
     Route: 064
  429. RITUXIMAB [Concomitant]
     Active Substance: RITUXIMAB
     Route: 064
  430. RITUXIMAB [Concomitant]
     Active Substance: RITUXIMAB
     Route: 064
  431. RITUXIMAB [Concomitant]
     Active Substance: RITUXIMAB
     Route: 064
  432. RITUXIMAB [Concomitant]
     Active Substance: RITUXIMAB
     Route: 064
  433. RITUXIMAB [Concomitant]
     Active Substance: RITUXIMAB
     Route: 064
  434. RITUXIMAB [Concomitant]
     Active Substance: RITUXIMAB
     Route: 064
  435. RITUXIMAB [Concomitant]
     Active Substance: RITUXIMAB
     Route: 064
  436. RITUXIMAB [Concomitant]
     Active Substance: RITUXIMAB
     Route: 064
  437. RITUXIMAB [Concomitant]
     Active Substance: RITUXIMAB
     Route: 064
  438. RITUXIMAB [Concomitant]
     Active Substance: RITUXIMAB
     Route: 064
  439. SIMPONI [Concomitant]
     Active Substance: GOLIMUMAB
     Indication: Product used for unknown indication
     Dosage: SOLUTION SUBCUTANEOUS
     Route: 064
  440. SIMPONI [Concomitant]
     Active Substance: GOLIMUMAB
     Route: 064
  441. SIMPONI [Concomitant]
     Active Substance: GOLIMUMAB
     Route: 064
  442. SIMPONI [Concomitant]
     Active Substance: GOLIMUMAB
     Route: 064
  443. SIMPONI [Concomitant]
     Active Substance: GOLIMUMAB
     Route: 064
  444. SIMPONI [Concomitant]
     Active Substance: GOLIMUMAB
     Route: 064
  445. SIMPONI [Concomitant]
     Active Substance: GOLIMUMAB
     Dosage: SOLUTION SUBCUTANEOUS
     Route: 064
  446. SIMPONI [Concomitant]
     Active Substance: GOLIMUMAB
     Dosage: SOLUTION SUBCUTANEOUS
     Route: 064
  447. SIMPONI [Concomitant]
     Active Substance: GOLIMUMAB
     Route: 064
  448. SIMPONI [Concomitant]
     Active Substance: GOLIMUMAB
     Route: 064
  449. SIMPONI [Concomitant]
     Active Substance: GOLIMUMAB
     Route: 064
  450. SIMPONI [Concomitant]
     Active Substance: GOLIMUMAB
     Route: 064
  451. SIMPONI [Concomitant]
     Active Substance: GOLIMUMAB
     Route: 064
  452. SIMPONI [Concomitant]
     Active Substance: GOLIMUMAB
     Route: 064
  453. SIMPONI [Concomitant]
     Active Substance: GOLIMUMAB
     Route: 064
  454. GOLD SODIUM THIOMALATE [Concomitant]
     Active Substance: GOLD SODIUM THIOMALATE
     Indication: Product used for unknown indication
     Route: 064
  455. GOLD SODIUM THIOMALATE [Concomitant]
     Active Substance: GOLD SODIUM THIOMALATE
     Route: 064
  456. GOLD SODIUM THIOMALATE [Concomitant]
     Active Substance: GOLD SODIUM THIOMALATE
     Route: 064
  457. STELARA [Concomitant]
     Active Substance: USTEKINUMAB
     Indication: Product used for unknown indication
     Route: 064
  458. STELARA [Concomitant]
     Active Substance: USTEKINUMAB
     Route: 064
  459. STELARA [Concomitant]
     Active Substance: USTEKINUMAB
     Route: 064
  460. STELARA [Concomitant]
     Active Substance: USTEKINUMAB
     Route: 064
  461. STELARA [Concomitant]
     Active Substance: USTEKINUMAB
     Route: 064
  462. STELARA [Concomitant]
     Active Substance: USTEKINUMAB
     Route: 064
  463. STELARA [Concomitant]
     Active Substance: USTEKINUMAB
     Route: 064
  464. SULFASALAZINE [Concomitant]
     Active Substance: SULFASALAZINE
     Indication: Product used for unknown indication
     Route: 064
  465. SULFASALAZINE [Concomitant]
     Active Substance: SULFASALAZINE
     Route: 064
  466. SULFASALAZINE [Concomitant]
     Active Substance: SULFASALAZINE
     Route: 064
  467. SULFASALAZINE [Concomitant]
     Active Substance: SULFASALAZINE
     Route: 064
  468. SULFASALAZINE [Concomitant]
     Active Substance: SULFASALAZINE
     Route: 064
  469. SULFASALAZINE [Concomitant]
     Active Substance: SULFASALAZINE
     Route: 064
  470. SULFASALAZINE [Concomitant]
     Active Substance: SULFASALAZINE
     Route: 064
  471. SULFASALAZINE [Concomitant]
     Active Substance: SULFASALAZINE
     Route: 064
  472. SULFASALAZINE [Concomitant]
     Active Substance: SULFASALAZINE
     Route: 064
  473. SULFASALAZINE [Concomitant]
     Active Substance: SULFASALAZINE
     Route: 064
  474. SULFASALAZINE [Concomitant]
     Active Substance: SULFASALAZINE
     Route: 064
  475. SULFASALAZINE [Concomitant]
     Active Substance: SULFASALAZINE
     Route: 064
  476. SULFASALAZINE [Concomitant]
     Active Substance: SULFASALAZINE
     Route: 064
  477. SULFASALAZINE [Concomitant]
     Active Substance: SULFASALAZINE
     Route: 064
  478. SULFASALAZINE [Concomitant]
     Active Substance: SULFASALAZINE
     Route: 064
  479. SULFASALAZINE [Concomitant]
     Active Substance: SULFASALAZINE
     Route: 064
  480. SULFASALAZINE [Concomitant]
     Active Substance: SULFASALAZINE
     Route: 064
  481. SULFASALAZINE [Concomitant]
     Active Substance: SULFASALAZINE
     Route: 064
  482. SULFASALAZINE [Concomitant]
     Active Substance: SULFASALAZINE
     Route: 064
  483. SULFASALAZINE [Concomitant]
     Active Substance: SULFASALAZINE
     Route: 064
  484. SULFASALAZINE [Concomitant]
     Active Substance: SULFASALAZINE
     Route: 064
  485. SULFASALAZINE [Concomitant]
     Active Substance: SULFASALAZINE
     Route: 064
  486. SULFASALAZINE [Concomitant]
     Active Substance: SULFASALAZINE
     Route: 064
  487. SULFASALAZINE [Concomitant]
     Active Substance: SULFASALAZINE
     Route: 064
  488. SULFASALAZINE [Concomitant]
     Active Substance: SULFASALAZINE
     Route: 064
  489. SULFASALAZINE [Concomitant]
     Active Substance: SULFASALAZINE
     Route: 064
  490. SULFASALAZINE [Concomitant]
     Active Substance: SULFASALAZINE
     Route: 064
  491. SULFASALAZINE [Concomitant]
     Active Substance: SULFASALAZINE
     Route: 064
  492. SULFASALAZINE [Concomitant]
     Active Substance: SULFASALAZINE
     Route: 064
  493. SULFASALAZINE [Concomitant]
     Active Substance: SULFASALAZINE
     Route: 064
  494. SULFASALAZINE [Concomitant]
     Active Substance: SULFASALAZINE
     Route: 064
  495. SULFASALAZINE [Concomitant]
     Active Substance: SULFASALAZINE
     Route: 064
  496. SULFASALAZINE [Concomitant]
     Active Substance: SULFASALAZINE
     Route: 064
  497. TOFACITINIB [Concomitant]
     Active Substance: TOFACITINIB
     Indication: Product used for unknown indication
     Route: 064
  498. TOFACITINIB [Concomitant]
     Active Substance: TOFACITINIB
     Route: 064
  499. TOFACITINIB [Concomitant]
     Active Substance: TOFACITINIB
     Route: 064
  500. TOFACITINIB [Concomitant]
     Active Substance: TOFACITINIB
     Route: 064
  501. TOFACITINIB [Concomitant]
     Active Substance: TOFACITINIB
     Route: 064
  502. TOFACITINIB [Concomitant]
     Active Substance: TOFACITINIB
     Route: 064
  503. TOFACITINIB [Concomitant]
     Active Substance: TOFACITINIB
     Route: 064
  504. PREDNISONE [Concomitant]
     Active Substance: PREDNISONE
     Indication: Product used for unknown indication
     Route: 064
  505. PREDNISONE [Concomitant]
     Active Substance: PREDNISONE
     Route: 064
  506. PREDNISONE [Concomitant]
     Active Substance: PREDNISONE
     Route: 064
  507. PREDNISONE [Concomitant]
     Active Substance: PREDNISONE
     Route: 064
  508. PREDNISONE [Concomitant]
     Active Substance: PREDNISONE
     Route: 064
  509. PREDNISONE [Concomitant]
     Active Substance: PREDNISONE
     Route: 064
  510. PREDNISONE [Concomitant]
     Active Substance: PREDNISONE
     Route: 064
  511. PREDNISONE [Concomitant]
     Active Substance: PREDNISONE
     Route: 064
  512. PREDNISONE [Concomitant]
     Active Substance: PREDNISONE
     Route: 064
  513. PREDNISONE [Concomitant]
     Active Substance: PREDNISONE
     Route: 064
  514. PREDNISONE [Concomitant]
     Active Substance: PREDNISONE
     Route: 064
  515. PREDNISONE [Concomitant]
     Active Substance: PREDNISONE
     Route: 064
  516. PREDNISONE [Concomitant]
     Active Substance: PREDNISONE
     Route: 064
  517. HYDROXYCHLOROQUINE [Concomitant]
     Active Substance: HYDROXYCHLOROQUINE
     Indication: Product used for unknown indication
     Route: 064
  518. HYDROXYCHLOROQUINE [Concomitant]
     Active Substance: HYDROXYCHLOROQUINE
     Route: 064
  519. HYDROXYCHLOROQUINE [Concomitant]
     Active Substance: HYDROXYCHLOROQUINE
     Route: 064
  520. HYDROXYCHLOROQUINE [Concomitant]
     Active Substance: HYDROXYCHLOROQUINE
     Route: 064
  521. HYDROXYCHLOROQUINE [Concomitant]
     Active Substance: HYDROXYCHLOROQUINE
     Route: 064
  522. HYDROXYCHLOROQUINE [Concomitant]
     Active Substance: HYDROXYCHLOROQUINE
     Route: 064
  523. HYDROXYCHLOROQUINE [Concomitant]
     Active Substance: HYDROXYCHLOROQUINE
     Route: 064
  524. HYDROXYCHLOROQUINE [Concomitant]
     Active Substance: HYDROXYCHLOROQUINE
     Route: 064
  525. HYDROXYCHLOROQUINE [Concomitant]
     Active Substance: HYDROXYCHLOROQUINE
     Route: 064
  526. HYDROXYCHLOROQUINE [Concomitant]
     Active Substance: HYDROXYCHLOROQUINE
     Route: 064
  527. HYDROXYCHLOROQUINE [Concomitant]
     Active Substance: HYDROXYCHLOROQUINE
     Route: 064
  528. HYDROXYCHLOROQUINE [Concomitant]
     Active Substance: HYDROXYCHLOROQUINE
     Route: 064
  529. HYDROXYCHLOROQUINE [Concomitant]
     Active Substance: HYDROXYCHLOROQUINE
     Route: 064
  530. HYDROXYCHLOROQUINE [Concomitant]
     Active Substance: HYDROXYCHLOROQUINE
     Route: 064
  531. HYDROXYCHLOROQUINE [Concomitant]
     Active Substance: HYDROXYCHLOROQUINE
     Route: 064
  532. HYDROXYCHLOROQUINE [Concomitant]
     Active Substance: HYDROXYCHLOROQUINE
     Route: 064
  533. HYDROXYCHLOROQUINE [Concomitant]
     Active Substance: HYDROXYCHLOROQUINE
     Route: 064
  534. HYDROXYCHLOROQUINE [Concomitant]
     Active Substance: HYDROXYCHLOROQUINE
     Route: 064
  535. HYDROXYCHLOROQUINE [Concomitant]
     Active Substance: HYDROXYCHLOROQUINE
     Route: 064
  536. HYDROXYCHLOROQUINE [Concomitant]
     Active Substance: HYDROXYCHLOROQUINE
     Route: 064
  537. HYDROXYCHLOROQUINE [Concomitant]
     Active Substance: HYDROXYCHLOROQUINE
     Route: 064
  538. HYDROXYCHLOROQUINE [Concomitant]
     Active Substance: HYDROXYCHLOROQUINE
     Route: 064
  539. HYDROXYCHLOROQUINE [Concomitant]
     Active Substance: HYDROXYCHLOROQUINE
     Route: 064
  540. HYDROXYCHLOROQUINE [Concomitant]
     Active Substance: HYDROXYCHLOROQUINE
     Route: 064
  541. HYDROXYCHLOROQUINE [Concomitant]
     Active Substance: HYDROXYCHLOROQUINE
     Route: 064
  542. HYDROXYCHLOROQUINE [Concomitant]
     Active Substance: HYDROXYCHLOROQUINE
     Route: 064
  543. HYDROXYCHLOROQUINE [Concomitant]
     Active Substance: HYDROXYCHLOROQUINE
     Route: 064
  544. HYDROXYCHLOROQUINE [Concomitant]
     Active Substance: HYDROXYCHLOROQUINE
     Route: 064
  545. HYDROXYCHLOROQUINE [Concomitant]
     Active Substance: HYDROXYCHLOROQUINE
     Route: 064
  546. HYDROXYCHLOROQUINE [Concomitant]
     Active Substance: HYDROXYCHLOROQUINE
     Route: 064
  547. HYDROXYCHLOROQUINE [Concomitant]
     Active Substance: HYDROXYCHLOROQUINE
     Route: 064
  548. HYDROXYCHLOROQUINE [Concomitant]
     Active Substance: HYDROXYCHLOROQUINE
     Route: 064
  549. HYDROXYCHLOROQUINE [Concomitant]
     Active Substance: HYDROXYCHLOROQUINE
     Route: 064
  550. HYDROXYCHLOROQUINE [Concomitant]
     Active Substance: HYDROXYCHLOROQUINE
     Route: 064
  551. HYDROXYCHLOROQUINE [Concomitant]
     Active Substance: HYDROXYCHLOROQUINE
     Route: 064
  552. HYDROXYCHLOROQUINE [Concomitant]
     Active Substance: HYDROXYCHLOROQUINE
     Route: 064
  553. ADALIMUMAB [Concomitant]
     Active Substance: ADALIMUMAB
     Indication: Product used for unknown indication
     Route: 064
  554. ADALIMUMAB [Concomitant]
     Active Substance: ADALIMUMAB
     Route: 064
  555. ADALIMUMAB [Concomitant]
     Active Substance: ADALIMUMAB
     Route: 064
  556. ADALIMUMAB [Concomitant]
     Active Substance: ADALIMUMAB
     Route: 064
  557. ADALIMUMAB [Concomitant]
     Active Substance: ADALIMUMAB
     Route: 064
  558. ADALIMUMAB [Concomitant]
     Active Substance: ADALIMUMAB
     Route: 064
  559. ADALIMUMAB [Concomitant]
     Active Substance: ADALIMUMAB
     Route: 064
  560. ADALIMUMAB [Concomitant]
     Active Substance: ADALIMUMAB
     Dosage: CUTANEOUS SOLUTION
     Route: 064
  561. ADALIMUMAB [Concomitant]
     Active Substance: ADALIMUMAB
     Dosage: CUTANEOUS SOLUTION
     Route: 064
  562. AIMOVIG [Concomitant]
     Active Substance: ERENUMAB-AOOE
     Indication: Product used for unknown indication
     Route: 064
  563. AIMOVIG [Concomitant]
     Active Substance: ERENUMAB-AOOE
     Route: 064
  564. CERTOLIZUMAB PEGOL [Concomitant]
     Active Substance: CERTOLIZUMAB PEGOL
     Indication: Product used for unknown indication
     Route: 064
  565. CERTOLIZUMAB PEGOL [Concomitant]
     Active Substance: CERTOLIZUMAB PEGOL
     Route: 064
  566. CERTOLIZUMAB PEGOL [Concomitant]
     Active Substance: CERTOLIZUMAB PEGOL
     Route: 064
  567. CERTOLIZUMAB PEGOL [Concomitant]
     Active Substance: CERTOLIZUMAB PEGOL
     Route: 064
  568. CERTOLIZUMAB PEGOL [Concomitant]
     Active Substance: CERTOLIZUMAB PEGOL
     Route: 064
  569. CERTOLIZUMAB PEGOL [Concomitant]
     Active Substance: CERTOLIZUMAB PEGOL
     Route: 064
  570. CERTOLIZUMAB PEGOL [Concomitant]
     Active Substance: CERTOLIZUMAB PEGOL
     Route: 064
  571. CORTISONE (HYDROCORTISONE) [Concomitant]
     Active Substance: HYDROCORTISONE
     Indication: Product used for unknown indication
     Route: 064
  572. CORTISONE (HYDROCORTISONE) [Concomitant]
     Active Substance: HYDROCORTISONE
     Route: 064
  573. CORTISONE (HYDROCORTISONE) [Concomitant]
     Active Substance: HYDROCORTISONE
     Route: 064
  574. CORTISONE (HYDROCORTISONE) [Concomitant]
     Active Substance: HYDROCORTISONE
     Route: 064
  575. HYDROXYCHLOROQUINE SULFATE [Concomitant]
     Active Substance: HYDROXYCHLOROQUINE SULFATE
     Indication: Product used for unknown indication
     Route: 064
  576. HYDROXYCHLOROQUINE SULFATE [Concomitant]
     Active Substance: HYDROXYCHLOROQUINE SULFATE
     Route: 064
  577. HYDROXYCHLOROQUINE SULFATE [Concomitant]
     Active Substance: HYDROXYCHLOROQUINE SULFATE
     Route: 064
  578. HYDROXYCHLOROQUINE SULFATE [Concomitant]
     Active Substance: HYDROXYCHLOROQUINE SULFATE
     Route: 064
  579. HYDROXYCHLOROQUINE SULFATE [Concomitant]
     Active Substance: HYDROXYCHLOROQUINE SULFATE
     Route: 064
  580. HYDROXYCHLOROQUINE SULFATE [Concomitant]
     Active Substance: HYDROXYCHLOROQUINE SULFATE
     Route: 064
  581. HYDROXYCHLOROQUINE SULFATE [Concomitant]
     Active Substance: HYDROXYCHLOROQUINE SULFATE
     Route: 064
  582. HYDROXYCHLOROQUINE SULFATE [Concomitant]
     Active Substance: HYDROXYCHLOROQUINE SULFATE
     Route: 064
  583. HYDROXYCHLOROQUINE SULFATE [Concomitant]
     Active Substance: HYDROXYCHLOROQUINE SULFATE
     Route: 064
  584. HYDROXYCHLOROQUINE SULFATE [Concomitant]
     Active Substance: HYDROXYCHLOROQUINE SULFATE
     Route: 064
  585. HYDROXYCHLOROQUINE SULFATE [Concomitant]
     Active Substance: HYDROXYCHLOROQUINE SULFATE
     Route: 064
  586. INFLIXIMAB [Concomitant]
     Active Substance: INFLIXIMAB
     Indication: Product used for unknown indication
     Route: 064
  587. INFLIXIMAB [Concomitant]
     Active Substance: INFLIXIMAB
     Route: 064
  588. INFLIXIMAB [Concomitant]
     Active Substance: INFLIXIMAB
     Route: 064
  589. INFLIXIMAB [Concomitant]
     Active Substance: INFLIXIMAB
     Route: 064
  590. INFLIXIMAB [Concomitant]
     Active Substance: INFLIXIMAB
     Route: 064
  591. INFLIXIMAB [Concomitant]
     Active Substance: INFLIXIMAB
     Route: 064
  592. PHTHALYLSULFATHIAZOLE [Concomitant]
     Active Substance: PHTHALYLSULFATHIAZOLE
     Indication: Product used for unknown indication
     Route: 064
  593. PHTHALYLSULFATHIAZOLE [Concomitant]
     Active Substance: PHTHALYLSULFATHIAZOLE
     Route: 064
  594. PHTHALYLSULFATHIAZOLE [Concomitant]
     Active Substance: PHTHALYLSULFATHIAZOLE
     Route: 064
  595. PHTHALYLSULFATHIAZOLE [Concomitant]
     Active Substance: PHTHALYLSULFATHIAZOLE
     Route: 064
  596. PHTHALYLSULFATHIAZOLE [Concomitant]
     Active Substance: PHTHALYLSULFATHIAZOLE
     Route: 064
  597. PHTHALYLSULFATHIAZOLE [Concomitant]
     Active Substance: PHTHALYLSULFATHIAZOLE
     Route: 064
  598. PHTHALYLSULFATHIAZOLE [Concomitant]
     Active Substance: PHTHALYLSULFATHIAZOLE
     Route: 064
  599. PHTHALYLSULFATHIAZOLE [Concomitant]
     Active Substance: PHTHALYLSULFATHIAZOLE
     Route: 064
  600. PHTHALYLSULFATHIAZOLE [Concomitant]
     Active Substance: PHTHALYLSULFATHIAZOLE
     Route: 064
  601. PHTHALYLSULFATHIAZOLE [Concomitant]
     Active Substance: PHTHALYLSULFATHIAZOLE
     Route: 064
  602. PHTHALYLSULFATHIAZOLE [Concomitant]
     Active Substance: PHTHALYLSULFATHIAZOLE
     Route: 064
  603. PHTHALYLSULFATHIAZOLE [Concomitant]
     Active Substance: PHTHALYLSULFATHIAZOLE
     Route: 064
  604. PHTHALYLSULFATHIAZOLE [Concomitant]
     Active Substance: PHTHALYLSULFATHIAZOLE
     Route: 064
  605. PHTHALYLSULFATHIAZOLE [Concomitant]
     Active Substance: PHTHALYLSULFATHIAZOLE
     Route: 064
  606. PHTHALYLSULFATHIAZOLE [Concomitant]
     Active Substance: PHTHALYLSULFATHIAZOLE
     Route: 064
  607. PHTHALYLSULFATHIAZOLE [Concomitant]
     Active Substance: PHTHALYLSULFATHIAZOLE
     Route: 064
  608. PHTHALYLSULFATHIAZOLE [Concomitant]
     Active Substance: PHTHALYLSULFATHIAZOLE
     Route: 064
  609. PHTHALYLSULFATHIAZOLE [Concomitant]
     Active Substance: PHTHALYLSULFATHIAZOLE
     Route: 064
  610. PHTHALYLSULFATHIAZOLE [Concomitant]
     Active Substance: PHTHALYLSULFATHIAZOLE
     Route: 064
  611. PHTHALYLSULFATHIAZOLE [Concomitant]
     Active Substance: PHTHALYLSULFATHIAZOLE
     Route: 064
  612. PHTHALYLSULFATHIAZOLE [Concomitant]
     Active Substance: PHTHALYLSULFATHIAZOLE
     Route: 064
  613. PHTHALYLSULFATHIAZOLE [Concomitant]
     Active Substance: PHTHALYLSULFATHIAZOLE
     Route: 064
  614. PHTHALYLSULFATHIAZOLE [Concomitant]
     Active Substance: PHTHALYLSULFATHIAZOLE
     Route: 064
  615. TOCILIZUMAB [Concomitant]
     Active Substance: TOCILIZUMAB
     Indication: Product used for unknown indication
     Route: 064
  616. TOCILIZUMAB [Concomitant]
     Active Substance: TOCILIZUMAB
     Route: 064
  617. TOCILIZUMAB [Concomitant]
     Active Substance: TOCILIZUMAB
     Route: 064
  618. TOCILIZUMAB [Concomitant]
     Active Substance: TOCILIZUMAB
     Route: 064
  619. TOCILIZUMAB [Concomitant]
     Active Substance: TOCILIZUMAB
     Route: 064
  620. TOCILIZUMAB [Concomitant]
     Active Substance: TOCILIZUMAB
     Route: 064
  621. TOCILIZUMAB [Concomitant]
     Active Substance: TOCILIZUMAB
     Route: 064
  622. TOCILIZUMAB [Concomitant]
     Active Substance: TOCILIZUMAB
     Route: 064
  623. TOCILIZUMAB [Concomitant]
     Active Substance: TOCILIZUMAB
     Route: 064
  624. TOCILIZUMAB [Concomitant]
     Active Substance: TOCILIZUMAB
     Route: 064
  625. TOCILIZUMAB [Concomitant]
     Active Substance: TOCILIZUMAB
     Route: 064
  626. TOCILIZUMAB [Concomitant]
     Active Substance: TOCILIZUMAB
     Route: 064
  627. TRAMADOL HYDROCHLORIDE [Concomitant]
     Active Substance: TRAMADOL HYDROCHLORIDE
     Indication: Product used for unknown indication
     Route: 064
  628. XELJANZ [Concomitant]
     Active Substance: TOFACITINIB CITRATE
     Indication: Product used for unknown indication
     Route: 064
  629. XELJANZ [Concomitant]
     Active Substance: TOFACITINIB CITRATE
     Route: 064
  630. XELJANZ [Concomitant]
     Active Substance: TOFACITINIB CITRATE
     Route: 064
  631. XELJANZ [Concomitant]
     Active Substance: TOFACITINIB CITRATE
     Route: 064
  632. XELJANZ [Concomitant]
     Active Substance: TOFACITINIB CITRATE
     Route: 064
  633. XELJANZ [Concomitant]
     Active Substance: TOFACITINIB CITRATE
     Route: 064
  634. XELJANZ [Concomitant]
     Active Substance: TOFACITINIB CITRATE
     Route: 064
  635. XELJANZ [Concomitant]
     Active Substance: TOFACITINIB CITRATE
     Route: 064
  636. XELJANZ [Concomitant]
     Active Substance: TOFACITINIB CITRATE
     Route: 064
  637. XELJANZ [Concomitant]
     Active Substance: TOFACITINIB CITRATE
     Route: 064
  638. XELJANZ [Concomitant]
     Active Substance: TOFACITINIB CITRATE
     Route: 064
  639. XELJANZ [Concomitant]
     Active Substance: TOFACITINIB CITRATE
     Route: 064
  640. XELJANZ [Concomitant]
     Active Substance: TOFACITINIB CITRATE
     Route: 064
  641. XELJANZ [Concomitant]
     Active Substance: TOFACITINIB CITRATE
     Route: 064
  642. XELJANZ [Concomitant]
     Active Substance: TOFACITINIB CITRATE
     Route: 064
  643. XELJANZ [Concomitant]
     Active Substance: TOFACITINIB CITRATE
     Route: 064
  644. XELJANZ [Concomitant]
     Active Substance: TOFACITINIB CITRATE
     Route: 064
  645. XELJANZ [Concomitant]
     Active Substance: TOFACITINIB CITRATE
     Route: 064
  646. XELJANZ [Concomitant]
     Active Substance: TOFACITINIB CITRATE
     Route: 064
  647. XELJANZ [Concomitant]
     Active Substance: TOFACITINIB CITRATE
     Route: 064
  648. XELJANZ [Concomitant]
     Active Substance: TOFACITINIB CITRATE
     Route: 064
  649. XELJANZ [Concomitant]
     Active Substance: TOFACITINIB CITRATE
     Route: 064
  650. ACETAMINOPHEN [Concomitant]
     Active Substance: ACETAMINOPHEN
     Indication: Product used for unknown indication
     Route: 064
  651. TETRACYCLINE HYDROCHLORIDE [Concomitant]
     Active Substance: TETRACYCLINE HYDROCHLORIDE
     Indication: Product used for unknown indication
     Route: 064
  652. MINOCYCLINE [Concomitant]
     Active Substance: MINOCYCLINE HYDROCHLORIDE
     Indication: Product used for unknown indication
     Route: 064
  653. MINOCYCLINE [Concomitant]
     Active Substance: MINOCYCLINE HYDROCHLORIDE
     Route: 064
  654. MINOCYCLINE [Concomitant]
     Active Substance: MINOCYCLINE HYDROCHLORIDE
     Route: 064
  655. MINOCYCLINE HYDROCHLORIDE [Concomitant]
     Active Substance: MINOCYCLINE HYDROCHLORIDE
     Indication: Product used for unknown indication
     Route: 064
  656. MYOCHRYSINE [Concomitant]
     Active Substance: GOLD SODIUM THIOMALATE
     Indication: Product used for unknown indication
     Dosage: SOLUTION INTRAMUSCULAR
     Route: 064
  657. MYOCHRYSINE [Concomitant]
     Active Substance: GOLD SODIUM THIOMALATE
     Dosage: SOLUTION INTRAMUSCULAR
     Route: 064
  658. SIRUKUMAB [Concomitant]
     Active Substance: SIRUKUMAB
     Indication: Product used for unknown indication
     Route: 064
  659. SULFASALAZINE [Concomitant]
     Active Substance: SULFASALAZINE
     Indication: Product used for unknown indication
     Route: 064
  660. SULFASALAZINE [Concomitant]
     Active Substance: SULFASALAZINE
     Route: 064
  661. SARILUMAB [Concomitant]
     Active Substance: SARILUMAB
     Indication: Product used for unknown indication
     Route: 064
  662. TOFACITINIB CITRATE [Concomitant]
     Active Substance: TOFACITINIB CITRATE
     Indication: Product used for unknown indication
     Route: 064
  663. TOFACITINIB CITRATE [Concomitant]
     Active Substance: TOFACITINIB CITRATE
     Route: 064
  664. TOFACITINIB CITRATE [Concomitant]
     Active Substance: TOFACITINIB CITRATE
     Route: 064
  665. TOFACITINIB CITRATE [Concomitant]
     Active Substance: TOFACITINIB CITRATE
     Route: 064
  666. TOFACITINIB CITRATE [Concomitant]
     Active Substance: TOFACITINIB CITRATE
     Route: 064
  667. TOFACITINIB CITRATE [Concomitant]
     Active Substance: TOFACITINIB CITRATE
     Route: 064
  668. TOFACITINIB CITRATE [Concomitant]
     Active Substance: TOFACITINIB CITRATE
     Route: 064
  669. TOFACITINIB CITRATE [Concomitant]
     Active Substance: TOFACITINIB CITRATE
     Route: 064
  670. TOFACITINIB CITRATE [Concomitant]
     Active Substance: TOFACITINIB CITRATE
     Route: 064
  671. TOFACITINIB CITRATE [Concomitant]
     Active Substance: TOFACITINIB CITRATE
     Route: 064
  672. TOFACITINIB CITRATE [Concomitant]
     Active Substance: TOFACITINIB CITRATE
     Route: 064
  673. TOFACITINIB CITRATE [Concomitant]
     Active Substance: TOFACITINIB CITRATE
     Route: 064
  674. TOFACITINIB CITRATE [Concomitant]
     Active Substance: TOFACITINIB CITRATE
     Route: 064
  675. LEFLUNOMIDE [Concomitant]
     Active Substance: LEFLUNOMIDE
     Indication: Product used for unknown indication
     Route: 064
  676. LEFLUNOMIDE [Concomitant]
     Active Substance: LEFLUNOMIDE
     Route: 064
  677. LEFLUNOMIDE [Concomitant]
     Active Substance: LEFLUNOMIDE
     Route: 064
  678. LEFLUNOMIDE [Concomitant]
     Active Substance: LEFLUNOMIDE
     Route: 064
  679. LEFLUNOMIDE [Concomitant]
     Active Substance: LEFLUNOMIDE
     Route: 064
  680. LEFLUNOMIDE [Concomitant]
     Active Substance: LEFLUNOMIDE
     Route: 064
  681. LEFLUNOMIDE [Concomitant]
     Active Substance: LEFLUNOMIDE
     Route: 064
  682. LEFLUNOMIDE [Concomitant]
     Active Substance: LEFLUNOMIDE
     Route: 064
  683. AZATHIOPRINE SODIUM [Concomitant]
     Active Substance: AZATHIOPRINE SODIUM
     Indication: Product used for unknown indication
     Route: 064
  684. HYDROCORTISONE [Concomitant]
     Active Substance: HYDROCORTISONE\HYDROCORTISONE ACETATE
     Indication: Product used for unknown indication
     Route: 064
  685. HYDROCORTISONE [Concomitant]
     Active Substance: HYDROCORTISONE\HYDROCORTISONE ACETATE
     Route: 064
  686. HYDROCORTISONE [Concomitant]
     Active Substance: HYDROCORTISONE\HYDROCORTISONE ACETATE
     Route: 064
  687. HYDROCORTISONE [Concomitant]
     Active Substance: HYDROCORTISONE\HYDROCORTISONE ACETATE
     Route: 064
  688. HYDROCORTISONE [Concomitant]
     Active Substance: HYDROCORTISONE\HYDROCORTISONE ACETATE
     Route: 064
  689. HYDROCORTISONE [Concomitant]
     Active Substance: HYDROCORTISONE\HYDROCORTISONE ACETATE
     Route: 064
  690. HYDROCORTISONE [Concomitant]
     Active Substance: HYDROCORTISONE\HYDROCORTISONE ACETATE
     Route: 064
  691. HYDROCORTISONE [Concomitant]
     Active Substance: HYDROCORTISONE\HYDROCORTISONE ACETATE
     Route: 064
  692. METHYLPREDNISOLONE [Concomitant]
     Active Substance: METHYLPREDNISOLONE
     Indication: Product used for unknown indication
     Route: 064
  693. METHYLPREDNISOLONE [Concomitant]
     Active Substance: METHYLPREDNISOLONE
     Route: 064
  694. NAPROXEN [Concomitant]
     Active Substance: NAPROXEN
     Indication: Product used for unknown indication
     Route: 064
  695. NAPROXEN [Concomitant]
     Active Substance: NAPROXEN
     Route: 064
  696. NAPROXEN [Concomitant]
     Active Substance: NAPROXEN
     Route: 064
  697. PLAQUENIL [Concomitant]
     Active Substance: HYDROXYCHLOROQUINE SULFATE
     Indication: Product used for unknown indication
     Route: 064
  698. HYDROCORTISONE ACETATE [Concomitant]
     Active Substance: HYDROCORTISONE ACETATE
     Indication: Product used for unknown indication
     Route: 064
  699. ACETAMINOPHEN AND CODEINE [Concomitant]
     Active Substance: ACETAMINOPHEN\CODEINE PHOSPHATE
     Indication: Product used for unknown indication
     Route: 064
  700. ACETAMINOPHEN AND CODEINE [Concomitant]
     Active Substance: ACETAMINOPHEN\CODEINE PHOSPHATE
     Route: 064
  701. ALENDRONIC ACID [Concomitant]
     Active Substance: ALENDRONIC ACID
     Indication: Product used for unknown indication
     Route: 064
  702. ALENDRONIC ACID [Concomitant]
     Active Substance: ALENDRONIC ACID
     Route: 064
  703. ALENDRONIC ACID [Concomitant]
     Active Substance: ALENDRONIC ACID
     Route: 064
  704. ALENDRONIC ACID [Concomitant]
     Active Substance: ALENDRONIC ACID
     Route: 064
  705. ALENDRONIC ACID [Concomitant]
     Active Substance: ALENDRONIC ACID
     Route: 064
  706. ALENDRONIC ACID [Concomitant]
     Active Substance: ALENDRONIC ACID
     Route: 064
  707. ALENDRONIC ACID [Concomitant]
     Active Substance: ALENDRONIC ACID
     Route: 064
  708. ALENDRONIC ACID [Concomitant]
     Active Substance: ALENDRONIC ACID
     Route: 064
  709. ALENDRONIC ACID [Concomitant]
     Active Substance: ALENDRONIC ACID
     Route: 064
  710. ALENDRONATE SODIUM\CHOLECALCIFEROL [Concomitant]
     Active Substance: ALENDRONATE SODIUM\CHOLECALCIFEROL
     Indication: Product used for unknown indication
     Route: 064
  711. DICLOFENAC SODIUM [Concomitant]
     Active Substance: DICLOFENAC\DICLOFENAC SODIUM
     Indication: Product used for unknown indication
     Route: 064
  712. DICLOFENAC SODIUM [Concomitant]
     Active Substance: DICLOFENAC\DICLOFENAC SODIUM
     Route: 064
  713. ATOMOXETINE [Concomitant]
     Active Substance: ATOMOXETINE HYDROCHLORIDE
     Indication: Product used for unknown indication
     Route: 064
  714. ATOMOXETINE [Concomitant]
     Active Substance: ATOMOXETINE HYDROCHLORIDE
     Route: 064
  715. ATOMOXETINE [Concomitant]
     Active Substance: ATOMOXETINE HYDROCHLORIDE
     Route: 064
  716. BERINERT [Concomitant]
     Active Substance: HUMAN C1-ESTERASE INHIBITOR
     Indication: Product used for unknown indication
     Route: 064
  717. BOTULINUM TOXIN TYPE A [Concomitant]
     Active Substance: BOTULINUM TOXIN TYPE A
     Indication: Product used for unknown indication
     Dosage: POWDER FOR SOLUTION
     Route: 064
  718. BUTRANS [Concomitant]
     Active Substance: BUPRENORPHINE
     Indication: Product used for unknown indication
     Dosage: PATCH
     Route: 064
  719. CANDESARTAN [Concomitant]
     Active Substance: CANDESARTAN
     Indication: Product used for unknown indication
     Route: 064
  720. CANDESARTAN [Concomitant]
     Active Substance: CANDESARTAN
     Route: 064
  721. CELEBREX [Concomitant]
     Active Substance: CELECOXIB
     Indication: Product used for unknown indication
     Route: 064
  722. CELEBREX [Concomitant]
     Active Substance: CELECOXIB
     Route: 064
  723. CELEBREX [Concomitant]
     Active Substance: CELECOXIB
     Route: 064
  724. DICLOFENAC DIETHYLAMINE [Concomitant]
     Active Substance: DICLOFENAC DIETHYLAMINE
     Indication: Product used for unknown indication
     Route: 064
  725. DOMPERIDONE MALEATE [Concomitant]
     Active Substance: DOMPERIDONE MALEATE
     Indication: Product used for unknown indication
     Route: 064
  726. FLUMETHASONE [Concomitant]
     Active Substance: FLUMETHASONE
     Indication: Product used for unknown indication
     Route: 064
  727. GOLD [Concomitant]
     Active Substance: GOLD
     Indication: Product used for unknown indication
     Route: 064
  728. HAIR KERATIN AMINO ACIDS GOLD COMPLEX [Concomitant]
     Active Substance: HAIR KERATIN AMINO ACIDS GOLD COMPLEX
     Indication: Product used for unknown indication
     Route: 064
  729. GOLIMUMAB [Concomitant]
     Active Substance: GOLIMUMAB
     Indication: Product used for unknown indication
     Route: 064
  730. GOLIMUMAB [Concomitant]
     Active Substance: GOLIMUMAB
     Route: 064
  731. GOLIMUMAB [Concomitant]
     Active Substance: GOLIMUMAB
     Route: 064
  732. GOLIMUMAB [Concomitant]
     Active Substance: GOLIMUMAB
     Route: 064
  733. LAMICTAL [Concomitant]
     Active Substance: LAMOTRIGINE
     Indication: Product used for unknown indication
     Route: 064
  734. LAMICTAL [Concomitant]
     Active Substance: LAMOTRIGINE
     Route: 064
  735. LAMICTAL [Concomitant]
     Active Substance: LAMOTRIGINE
     Route: 064
  736. MEGLUMINE [Concomitant]
     Active Substance: MEGLUMINE
     Indication: Product used for unknown indication
     Route: 064
  737. MEGLUMINE [Concomitant]
     Active Substance: MEGLUMINE
     Route: 064
  738. METHYLPREDNISOLONE SODIUM SUCCINATE [Concomitant]
     Active Substance: METHYLPREDNISOLONE SODIUM SUCCINATE
     Indication: Product used for unknown indication
     Route: 064
  739. METHYLPREDNISOLONE SODIUM SUCCINATE [Concomitant]
     Active Substance: METHYLPREDNISOLONE SODIUM SUCCINATE
     Route: 064
  740. MYRBETRIQ [Concomitant]
     Active Substance: MIRABEGRON
     Indication: Product used for unknown indication
     Route: 064
  741. MYRBETRIQ [Concomitant]
     Active Substance: MIRABEGRON
     Route: 064
  742. MYRBETRIQ [Concomitant]
     Active Substance: MIRABEGRON
     Route: 064
  743. MYRBETRIQ [Concomitant]
     Active Substance: MIRABEGRON
     Route: 064
  744. NAPROXEN [Concomitant]
     Active Substance: NAPROXEN
     Indication: Product used for unknown indication
     Route: 064
  745. NAPROXEN [Concomitant]
     Active Substance: NAPROXEN
     Route: 064
  746. NAPROXEN [Concomitant]
     Active Substance: NAPROXEN
     Route: 064
  747. NAPROXEN SODIUM [Concomitant]
     Active Substance: NAPROXEN\NAPROXEN SODIUM
     Indication: Product used for unknown indication
     Route: 064
  748. NAPROXEN SODIUM [Concomitant]
     Active Substance: NAPROXEN\NAPROXEN SODIUM
     Route: 064
  749. NAPROXEN SODIUM [Concomitant]
     Active Substance: NAPROXEN\NAPROXEN SODIUM
     Route: 064
  750. NUCALA [Concomitant]
     Active Substance: MEPOLIZUMAB
     Indication: Product used for unknown indication
     Route: 064
  751. OXYCODONE [Concomitant]
     Active Substance: OXYCODONE
     Indication: Product used for unknown indication
     Route: 064
  752. OXYCODONE TEREPHTHALATE [Concomitant]
     Active Substance: OXYCODONE TEREPHTHALATE
     Indication: Product used for unknown indication
     Route: 064
  753. PHENYLEPHRINE HYDROCHLORIDE [Concomitant]
     Active Substance: PHENYLEPHRINE HYDROCHLORIDE
     Indication: Product used for unknown indication
     Route: 064
  754. PHENYLEPHRINE HYDROCHLORIDE [Concomitant]
     Active Substance: PHENYLEPHRINE HYDROCHLORIDE
     Dosage: INJECTION USP, LIQUID INTRAMUSCULAR
     Route: 064
  755. RAMIPRIL [Concomitant]
     Active Substance: RAMIPRIL
     Indication: Product used for unknown indication
     Route: 064
  756. RAMIPRIL [Concomitant]
     Active Substance: RAMIPRIL
     Route: 064
  757. RAMIPRIL [Concomitant]
     Active Substance: RAMIPRIL
     Route: 064
  758. RANITIDINE [Concomitant]
     Active Substance: RANITIDINE
     Indication: Product used for unknown indication
     Route: 064
  759. CETIRIZINE HYDROCHLORIDE\PSEUDOEPHEDRINE HYDROCHLORIDE [Concomitant]
     Active Substance: CETIRIZINE HYDROCHLORIDE\PSEUDOEPHEDRINE HYDROCHLORIDE
     Indication: Product used for unknown indication
     Route: 064
  760. CETIRIZINE HYDROCHLORIDE\PSEUDOEPHEDRINE HYDROCHLORIDE [Concomitant]
     Active Substance: CETIRIZINE HYDROCHLORIDE\PSEUDOEPHEDRINE HYDROCHLORIDE
     Route: 064
  761. CETIRIZINE HYDROCHLORIDE\PSEUDOEPHEDRINE HYDROCHLORIDE [Concomitant]
     Active Substance: CETIRIZINE HYDROCHLORIDE\PSEUDOEPHEDRINE HYDROCHLORIDE
     Route: 064
  762. CETIRIZINE HYDROCHLORIDE\PSEUDOEPHEDRINE HYDROCHLORIDE [Concomitant]
     Active Substance: CETIRIZINE HYDROCHLORIDE\PSEUDOEPHEDRINE HYDROCHLORIDE
     Route: 064
  763. CETIRIZINE HYDROCHLORIDE\PSEUDOEPHEDRINE HYDROCHLORIDE [Concomitant]
     Active Substance: CETIRIZINE HYDROCHLORIDE\PSEUDOEPHEDRINE HYDROCHLORIDE
     Route: 064
  764. CETIRIZINE HYDROCHLORIDE\PSEUDOEPHEDRINE HYDROCHLORIDE [Concomitant]
     Active Substance: CETIRIZINE HYDROCHLORIDE\PSEUDOEPHEDRINE HYDROCHLORIDE
     Route: 064
  765. CETIRIZINE HYDROCHLORIDE\PSEUDOEPHEDRINE HYDROCHLORIDE [Concomitant]
     Active Substance: CETIRIZINE HYDROCHLORIDE\PSEUDOEPHEDRINE HYDROCHLORIDE
     Dosage: EXTENDED RELEASE
     Route: 064
  766. CETIRIZINE HYDROCHLORIDE\PSEUDOEPHEDRINE HYDROCHLORIDE [Concomitant]
     Active Substance: CETIRIZINE HYDROCHLORIDE\PSEUDOEPHEDRINE HYDROCHLORIDE
     Route: 064
  767. CETIRIZINE HYDROCHLORIDE\PSEUDOEPHEDRINE HYDROCHLORIDE [Concomitant]
     Active Substance: CETIRIZINE HYDROCHLORIDE\PSEUDOEPHEDRINE HYDROCHLORIDE
     Route: 064
  768. CETIRIZINE HYDROCHLORIDE\PSEUDOEPHEDRINE HYDROCHLORIDE [Concomitant]
     Active Substance: CETIRIZINE HYDROCHLORIDE\PSEUDOEPHEDRINE HYDROCHLORIDE
     Route: 064
  769. CETIRIZINE HYDROCHLORIDE\PSEUDOEPHEDRINE HYDROCHLORIDE [Concomitant]
     Active Substance: CETIRIZINE HYDROCHLORIDE\PSEUDOEPHEDRINE HYDROCHLORIDE
     Route: 064
  770. CETIRIZINE HYDROCHLORIDE\PSEUDOEPHEDRINE HYDROCHLORIDE [Concomitant]
     Active Substance: CETIRIZINE HYDROCHLORIDE\PSEUDOEPHEDRINE HYDROCHLORIDE
     Route: 064
  771. TOPIRAMATE [Concomitant]
     Active Substance: TOPIRAMATE
     Indication: Product used for unknown indication
     Route: 064
  772. TOPIRAMATE [Concomitant]
     Active Substance: TOPIRAMATE
     Route: 064
  773. TOPIRAMATE [Concomitant]
     Active Substance: TOPIRAMATE
     Route: 064
  774. USTEKINUMAB [Concomitant]
     Active Substance: USTEKINUMAB
     Indication: Product used for unknown indication
     Route: 064
  775. USTEKINUMAB [Concomitant]
     Active Substance: USTEKINUMAB
     Route: 064
  776. USTEKINUMAB [Concomitant]
     Active Substance: USTEKINUMAB
     Route: 064
  777. USTEKINUMAB [Concomitant]
     Active Substance: USTEKINUMAB
     Route: 064
  778. USTEKINUMAB [Concomitant]
     Active Substance: USTEKINUMAB
     Route: 064
  779. VITAMIN C [Concomitant]
     Active Substance: ASCORBIC ACID
     Indication: Product used for unknown indication
     Route: 064
  780. VITAMIN C [Concomitant]
     Active Substance: ASCORBIC ACID
     Route: 064
  781. VITAMIN C [Concomitant]
     Active Substance: ASCORBIC ACID
     Route: 064
  782. VITAMIN C [Concomitant]
     Active Substance: ASCORBIC ACID
     Dosage: VITAMIN C ASCORBIC?ACID TAB 1000MG
     Route: 064
  783. VITAMIN D3 [Concomitant]
     Active Substance: CHOLECALCIFEROL
     Indication: Product used for unknown indication
     Route: 064
  784. VITAMIN D3 [Concomitant]
     Active Substance: CHOLECALCIFEROL
     Route: 064
  785. TRAMADOL HYDROCHLORIDE [Concomitant]
     Active Substance: TRAMADOL HYDROCHLORIDE
     Indication: Product used for unknown indication
     Route: 064
  786. AZATHIOPRINE [Concomitant]
     Active Substance: AZATHIOPRINE
     Indication: Product used for unknown indication
     Route: 064
  787. CETIRIZINE [Concomitant]
     Active Substance: CETIRIZINE HYDROCHLORIDE
     Indication: Product used for unknown indication
     Route: 064
  788. CETIRIZINE [Concomitant]
     Active Substance: CETIRIZINE HYDROCHLORIDE
     Route: 064
  789. CETIRIZINE [Concomitant]
     Active Substance: CETIRIZINE HYDROCHLORIDE
     Route: 064
  790. PERIOGARD [Concomitant]
     Active Substance: CHLORHEXIDINE GLUCONATE
     Indication: Product used for unknown indication
     Route: 064
  791. PERIOGARD [Concomitant]
     Active Substance: CHLORHEXIDINE GLUCONATE
     Route: 064
  792. PSEUDOEPHEDRINE [Concomitant]
     Active Substance: PSEUDOEPHEDRINE
     Indication: Product used for unknown indication
     Route: 064
  793. SULFAMETHOXAZOLE AND TRIMETHOPRIM [Concomitant]
     Active Substance: SULFAMETHOXAZOLE\TRIMETHOPRIM
     Indication: Product used for unknown indication
     Route: 064
  794. DESOGESTREL\ETHINYL ESTRADIOL [Concomitant]
     Active Substance: DESOGESTREL\ETHINYL ESTRADIOL
     Indication: Product used for unknown indication
     Route: 064
  795. OTEZLA [Concomitant]
     Active Substance: APREMILAST
     Indication: Product used for unknown indication
     Route: 064
  796. OTEZLA [Concomitant]
     Active Substance: APREMILAST
     Route: 064
  797. OTEZLA [Concomitant]
     Active Substance: APREMILAST
     Route: 064
  798. CALCIUM ASCORBATE [Concomitant]
     Active Substance: CALCIUM ASCORBATE
     Indication: Product used for unknown indication
     Route: 064
  799. CALCIUM CARBONATE [Concomitant]
     Active Substance: CALCIUM CARBONATE
     Indication: Product used for unknown indication
     Route: 064
  800. CALCIUM CARBONATE [Concomitant]
     Active Substance: CALCIUM CARBONATE
     Route: 064
  801. CALCIUM GLUBIONATE [Concomitant]
     Active Substance: CALCIUM GLUBIONATE
     Indication: Product used for unknown indication
     Route: 064
  802. CALCIUM GLUBIONATE [Concomitant]
     Active Substance: CALCIUM GLUBIONATE
     Route: 064
  803. CHLORHEXIDINE GLUCONATE [Concomitant]
     Active Substance: CHLORHEXIDINE GLUCONATE
     Indication: Product used for unknown indication
     Route: 064
  804. CHLORHEXIDINE GLUCONATE [Concomitant]
     Active Substance: CHLORHEXIDINE GLUCONATE
     Route: 064
  805. ERGOCALCIFEROL [Concomitant]
     Active Substance: ERGOCALCIFEROL
     Indication: Product used for unknown indication
     Route: 064
  806. NICOTINAMIDE [Concomitant]
     Active Substance: NIACINAMIDE
     Indication: Product used for unknown indication
     Route: 064
  807. THIAMINE HYDROCHLORIDE [Concomitant]
     Active Substance: THIAMINE HYDROCHLORIDE
     Indication: Product used for unknown indication
     Route: 064
  808. THIAMINE HYDROCHLORIDE [Concomitant]
     Active Substance: THIAMINE HYDROCHLORIDE
     Route: 064
  809. THIAMINE HYDROCHLORIDE [Concomitant]
     Active Substance: THIAMINE HYDROCHLORIDE
     Route: 064
  810. ZINC [Concomitant]
     Active Substance: ZINC
     Indication: Product used for unknown indication
     Route: 064
  811. HYDROCORTISONE BUTYRATE [Concomitant]
     Active Substance: HYDROCORTISONE BUTYRATE
     Indication: Product used for unknown indication
     Route: 064
  812. MAGNESIUM CITRATE [Concomitant]
     Active Substance: MAGNESIUM CITRATE
     Indication: Product used for unknown indication
     Route: 064
  813. ACETAMINOPHEN\CODEINE PHOSPHATE [Concomitant]
     Active Substance: ACETAMINOPHEN\CODEINE PHOSPHATE
     Indication: Product used for unknown indication
     Route: 064
  814. ACETAMINOPHEN\CODEINE PHOSPHATE [Concomitant]
     Active Substance: ACETAMINOPHEN\CODEINE PHOSPHATE
     Dosage: ELIXIR ACETAMINOPHEN +COD.PHOS.ELX,USP160 MG-8MG/5M
     Route: 064
  815. ALENDRONATE SODIUM\CHOLECALCIFEROL [Concomitant]
     Active Substance: ALENDRONATE SODIUM\CHOLECALCIFEROL
     Indication: Product used for unknown indication
     Route: 064
  816. ATOMOXETINE HYDROCHLORIDE [Concomitant]
     Active Substance: ATOMOXETINE HYDROCHLORIDE
     Indication: Product used for unknown indication
     Route: 064
  817. RANITIDINE HYDROCHLORIDE [Concomitant]
     Active Substance: RANITIDINE HYDROCHLORIDE
     Indication: Product used for unknown indication
     Route: 064
  818. DIETARY SUPPLEMENT [Concomitant]
     Active Substance: DIETARY SUPPLEMENT
     Indication: Product used for unknown indication
     Route: 064
  819. CALCIUM CARBONATE\CALCIUM GLUCONATE\CALCIUM LACTATE [Concomitant]
     Active Substance: CALCIUM CARBONATE\CALCIUM GLUCONATE\CALCIUM LACTATE
     Indication: Product used for unknown indication
     Route: 064
  820. CHOLECALCIFEROL [Concomitant]
     Active Substance: CHOLECALCIFEROL
     Indication: Product used for unknown indication
     Route: 064
  821. CALCIUM CITRATE [Concomitant]
     Active Substance: CALCIUM CITRATE
     Indication: Product used for unknown indication
     Route: 064
  822. CHLORHEXIDINE GLUCONATE\ISOPROPYL ALCOHOL [Concomitant]
     Active Substance: CHLORHEXIDINE GLUCONATE\ISOPROPYL ALCOHOL
     Indication: Product used for unknown indication
     Route: 064
  823. HYDROCORTISONE PROBUTATE [Concomitant]
     Active Substance: HYDROCORTISONE PROBUTATE
     Indication: Product used for unknown indication
     Route: 064
  824. ISOPROPYL ALCOHOL [Concomitant]
     Active Substance: ISOPROPYL ALCOHOL
     Indication: Product used for unknown indication
     Route: 064
  825. FLUMETHASONE PIVALATE [Concomitant]
     Active Substance: FLUMETHASONE PIVALATE
     Indication: Product used for unknown indication
     Route: 064
  826. FLUMETHASONE PIVALATE [Concomitant]
     Active Substance: FLUMETHASONE PIVALATE
     Route: 064
  827. MINOCYCLINE HYDROCHLORIDE [Concomitant]
     Active Substance: MINOCYCLINE HYDROCHLORIDE
     Indication: Product used for unknown indication
     Route: 064
  828. PSEUDOEPHEDRINE HYDROCHLORIDE [Concomitant]
     Active Substance: PSEUDOEPHEDRINE HYDROCHLORIDE
     Indication: Product used for unknown indication
     Route: 064
  829. PSEUDOEPHEDRINE HYDROCHLORIDE [Concomitant]
     Active Substance: PSEUDOEPHEDRINE HYDROCHLORIDE
     Route: 064
  830. PSEUDOEPHEDRINE HYDROCHLORIDE [Concomitant]
     Active Substance: PSEUDOEPHEDRINE HYDROCHLORIDE
     Route: 064
  831. PSEUDOEPHEDRINE HYDROCHLORIDE [Concomitant]
     Active Substance: PSEUDOEPHEDRINE HYDROCHLORIDE
     Route: 064
  832. RIBOFLAVIN [Concomitant]
     Active Substance: RIBOFLAVIN
     Indication: Product used for unknown indication
     Route: 064
  833. RIBOFLAVIN [Concomitant]
     Active Substance: RIBOFLAVIN
     Route: 064
  834. DICLOFENAC [Concomitant]
     Active Substance: DICLOFENAC
     Indication: Product used for unknown indication
     Route: 064
  835. DICLOFENAC [Concomitant]
     Active Substance: DICLOFENAC
     Route: 064
  836. DICLOFENAC [Concomitant]
     Active Substance: DICLOFENAC
     Route: 064
  837. ATIVAN [Concomitant]
     Active Substance: LORAZEPAM
     Indication: Product used for unknown indication
     Route: 064
  838. CALCIUM GLUCONATE\CALCIUM LACTATE [Concomitant]
     Active Substance: CALCIUM GLUCONATE\CALCIUM LACTATE
     Indication: Product used for unknown indication
     Route: 064
  839. CALCIUM LACTATE [Concomitant]
     Active Substance: CALCIUM LACTATE
     Indication: Product used for unknown indication
     Route: 064
  840. CYANOCOBALAMIN [Concomitant]
     Active Substance: CYANOCOBALAMIN
     Indication: Product used for unknown indication
     Route: 064
  841. DICLOFENAC POTASSIUM [Concomitant]
     Active Substance: DICLOFENAC POTASSIUM
     Indication: Product used for unknown indication
     Route: 064
  842. GLUCOSAMINE [Concomitant]
     Active Substance: GLUCOSAMINE
     Indication: Product used for unknown indication
     Route: 064
  843. IBUPROFEN [Concomitant]
     Active Substance: IBUPROFEN
     Indication: Product used for unknown indication
     Route: 064
  844. LANSOPRAZOLE [Concomitant]
     Active Substance: LANSOPRAZOLE
     Indication: Product used for unknown indication
     Route: 064
  845. LISINOPRIL [Concomitant]
     Active Substance: LISINOPRIL
     Indication: Product used for unknown indication
     Route: 064
  846. LORAZEPAM [Concomitant]
     Active Substance: LORAZEPAM
     Indication: Product used for unknown indication
     Route: 064
  847. MAGNESIUM [Concomitant]
     Active Substance: MAGNESIUM
     Indication: Product used for unknown indication
     Route: 064
  848. PANTOPRAZOLE [Concomitant]
     Active Substance: PANTOPRAZOLE
     Indication: Product used for unknown indication
     Route: 064
  849. PREDNISOLONE [Concomitant]
     Active Substance: PREDNISOLONE
     Indication: Product used for unknown indication
     Route: 064
  850. QUETIAPINE [Concomitant]
     Active Substance: QUETIAPINE
     Indication: Product used for unknown indication
     Route: 064
  851. QUETIAPINE FUMARATE [Concomitant]
     Active Substance: QUETIAPINE FUMARATE
     Indication: Product used for unknown indication
     Route: 064
  852. RISEDRONATE SODIUM [Concomitant]
     Active Substance: RISEDRONATE SODIUM
     Indication: Product used for unknown indication
     Route: 064
  853. RISEDRONATE SODIUM [Concomitant]
     Active Substance: RISEDRONATE SODIUM
     Route: 064
  854. DIETARY SUPPLEMENT\HERBALS [Concomitant]
     Active Substance: DIETARY SUPPLEMENT\HERBALS
     Indication: Product used for unknown indication
     Route: 064
  855. FISH OIL [Concomitant]
     Active Substance: FISH OIL
     Indication: Product used for unknown indication
     Route: 064
  856. TOPAMAX [Concomitant]
     Active Substance: TOPIRAMATE
     Indication: Product used for unknown indication
     Route: 064
  857. TOPAMAX [Concomitant]
     Active Substance: TOPIRAMATE
     Route: 064
  858. TOPAMAX [Concomitant]
     Active Substance: TOPIRAMATE
     Route: 064
  859. TOPAMAX [Concomitant]
     Active Substance: TOPIRAMATE
     Route: 064
  860. TOPAMAX [Concomitant]
     Active Substance: TOPIRAMATE
     Route: 064
  861. METFORMIN HYDROCHLORIDE [Concomitant]
     Active Substance: METFORMIN HYDROCHLORIDE
     Indication: Product used for unknown indication
     Route: 064
  862. TETRACYCLINE HYDROCHLORIDE [Concomitant]
     Active Substance: TETRACYCLINE HYDROCHLORIDE
     Indication: Product used for unknown indication
     Route: 064
  863. ACETAMINOPHEN [Concomitant]
     Active Substance: ACETAMINOPHEN
     Indication: Product used for unknown indication
     Route: 064
  864. BENZOCAINE [Concomitant]
     Active Substance: BENZOCAINE
     Indication: Product used for unknown indication
     Route: 064
  865. CAFFEINE [Concomitant]
     Active Substance: CAFFEINE
     Indication: Product used for unknown indication
     Route: 064
  866. CAFFEINE CITRATE [Concomitant]
     Active Substance: CAFFEINE CITRATE
     Indication: Product used for unknown indication
     Route: 064
  867. CELECOXIB [Concomitant]
     Active Substance: CELECOXIB
     Indication: Product used for unknown indication
     Route: 064
  868. CETRIMONIUM BROMIDE [Concomitant]
     Active Substance: CETRIMONIUM BROMIDE
     Indication: Product used for unknown indication
     Route: 064
  869. CETRIMONIUM BROMIDE [Concomitant]
     Active Substance: CETRIMONIUM BROMIDE
     Route: 064
  870. CHLORAPREP [Concomitant]
     Active Substance: CHLORHEXIDINE GLUCONATE\ISOPROPYL ALCOHOL
     Indication: Product used for unknown indication
     Route: 064
  871. CHLORAPREP [Concomitant]
     Active Substance: CHLORHEXIDINE GLUCONATE\ISOPROPYL ALCOHOL
     Route: 064
  872. DOXYCYCLINE [Concomitant]
     Active Substance: DOXYCYCLINE\DOXYCYCLINE HYCLATE
     Indication: Product used for unknown indication
     Route: 064
  873. ELBASVIR [Concomitant]
     Active Substance: ELBASVIR
     Indication: Product used for unknown indication
     Route: 064
  874. LYRICA [Concomitant]
     Active Substance: PREGABALIN
     Indication: Product used for unknown indication
     Route: 064
  875. MYCOPHENOLATE MOFETIL [Concomitant]
     Active Substance: MYCOPHENOLATE MOFETIL
     Indication: Product used for unknown indication
     Route: 064
  876. MYCOPHENOLATE MOFETIL [Concomitant]
     Active Substance: MYCOPHENOLATE MOFETIL
     Route: 064
  877. HYALURONIDASE (HUMAN RECOMBINANT) [Concomitant]
     Active Substance: HYALURONIDASE (HUMAN RECOMBINANT)
     Indication: Product used for unknown indication
     Route: 064
  878. HYALURONIDASE (HUMAN RECOMBINANT) [Concomitant]
     Active Substance: HYALURONIDASE (HUMAN RECOMBINANT)
     Route: 064
  879. HYALURONIDASE (HUMAN RECOMBINANT) [Concomitant]
     Active Substance: HYALURONIDASE (HUMAN RECOMBINANT)
     Route: 064
  880. PREDNISONE [Concomitant]
     Active Substance: PREDNISONE
     Indication: Product used for unknown indication
     Route: 064
  881. PREDNISONE [Concomitant]
     Active Substance: PREDNISONE
     Route: 064
  882. CALCIUM [Concomitant]
     Active Substance: CALCIUM
     Indication: Product used for unknown indication
  883. CHLORAPREP [Concomitant]
     Active Substance: CHLORHEXIDINE GLUCONATE\ISOPROPYL ALCOHOL
     Indication: Product used for unknown indication
     Route: 061
  884. CHLORHEXIDINE [Concomitant]
     Active Substance: CHLORHEXIDINE
     Indication: Product used for unknown indication
     Route: 064
  885. CHLORHEXIDINE [Concomitant]
     Active Substance: CHLORHEXIDINE
     Route: 064
  886. DEXAMETHASONE [Concomitant]
     Active Substance: DEXAMETHASONE
     Indication: Product used for unknown indication
     Route: 064
  887. DEXAMETHASONE [Concomitant]
     Active Substance: DEXAMETHASONE
     Route: 064
  888. DICLOFENAC [Concomitant]
     Active Substance: DICLOFENAC
     Indication: Product used for unknown indication
  889. OXYCODONE HYDROCHLORIDE [Concomitant]
     Active Substance: OXYCODONE HYDROCHLORIDE
     Indication: Product used for unknown indication
     Route: 064
  890. CETIRIZINE HYDROCHLORIDE [Concomitant]
     Active Substance: CETIRIZINE HYDROCHLORIDE
     Indication: Product used for unknown indication
     Route: 064
  891. SULFAMETHOXAZOLE [Concomitant]
     Active Substance: SULFAMETHOXAZOLE
     Indication: Product used for unknown indication
  892. PANTOPRAZOLE SODIUM ANHYDROUS [Concomitant]
     Active Substance: PANTOPRAZOLE SODIUM ANHYDROUS
     Indication: Product used for unknown indication
     Route: 064
  893. CALCIUM CHLORIDE [Concomitant]
     Active Substance: CALCIUM CHLORIDE
     Indication: Product used for unknown indication
     Route: 064
  894. CALCIUM GLUCONATE [Concomitant]
     Active Substance: CALCIUM GLUCONATE
     Indication: Product used for unknown indication
     Route: 064
  895. CHOLECALCIFEROL [Concomitant]
     Active Substance: CHOLECALCIFEROL
     Indication: Product used for unknown indication
     Route: 064
  896. DOCONEXENT [Concomitant]
     Active Substance: DOCONEXENT
     Indication: Product used for unknown indication
     Route: 064
  897. ICOSAPENT [Concomitant]
     Active Substance: ICOSAPENT
     Indication: Product used for unknown indication
     Route: 064
  898. HYRIMOZ [Concomitant]
     Active Substance: ADALIMUMAB-ADAZ
     Indication: Product used for unknown indication
     Dosage: SOLUTION SUBCUTANEOUS
     Route: 064
  899. HYRIMOZ [Concomitant]
     Active Substance: ADALIMUMAB-ADAZ
     Route: 064
  900. HYRIMOZ [Concomitant]
     Active Substance: ADALIMUMAB-ADAZ
     Route: 064
  901. LISINOPRIL [Concomitant]
     Active Substance: LISINOPRIL
     Indication: Product used for unknown indication
     Route: 064
  902. HYDROCORTISONE [Concomitant]
     Active Substance: HYDROCORTISONE\HYDROCORTISONE ACETATE
     Indication: Product used for unknown indication
     Route: 064
  903. HYDROCORTISONE [Concomitant]
     Active Substance: HYDROCORTISONE\HYDROCORTISONE ACETATE
     Route: 064
  904. HYDROCORTISONE [Concomitant]
     Active Substance: HYDROCORTISONE\HYDROCORTISONE ACETATE
     Route: 064
  905. TRIPROLIDINE HYDROCHLORIDE [Concomitant]
     Active Substance: TRIPROLIDINE HYDROCHLORIDE
     Indication: Product used for unknown indication
     Route: 064
  906. LEVOTHYROXINE SODIUM [Concomitant]
     Active Substance: LEVOTHYROXINE SODIUM
     Indication: Product used for unknown indication
     Route: 064
  907. MELOXICAM [Concomitant]
     Active Substance: MELOXICAM
     Indication: Product used for unknown indication
     Route: 064
  908. PANTOPRAZOLE SODIUM [Concomitant]
     Active Substance: PANTOPRAZOLE SODIUM
     Indication: Product used for unknown indication
     Route: 064
  909. PIROXICAM [Concomitant]
     Active Substance: PIROXICAM
     Indication: Product used for unknown indication
     Route: 064
  910. ALENDRONATE [Concomitant]
     Active Substance: ALENDRONATE SODIUM
     Indication: Product used for unknown indication
     Route: 064
  911. DEXTROMETHORPHAN [Concomitant]
     Active Substance: DEXTROMETHORPHAN
     Indication: Product used for unknown indication
  912. ETANERCEPT [Concomitant]
     Active Substance: ETANERCEPT
     Indication: Product used for unknown indication
  913. OXYCODONE TEREPHTHALATE [Concomitant]
     Active Substance: OXYCODONE TEREPHTHALATE
     Indication: Product used for unknown indication
  914. PHENYLEPHRINE HYDROCHLORIDE [Concomitant]
     Active Substance: PHENYLEPHRINE HYDROCHLORIDE
     Indication: Product used for unknown indication
     Route: 064
  915. VITAMIN A [Concomitant]
     Active Substance: VITAMIN A
     Indication: Product used for unknown indication
     Route: 064
  916. ACETAMINOPHEN\OXYCODONE HYDROCHLORIDE [Concomitant]
     Active Substance: ACETAMINOPHEN\OXYCODONE HYDROCHLORIDE
     Indication: Product used for unknown indication
     Route: 064
  917. CETIRIZINE HYDROCHLORIDE AND PSEUDOEPHEDRINE HYDROCHLORIDE [Concomitant]
     Active Substance: CETIRIZINE HYDROCHLORIDE\PSEUDOEPHEDRINE HYDROCHLORIDE
     Indication: Product used for unknown indication
     Route: 064
  918. CETIRIZINE HYDROCHLORIDE AND PSEUDOEPHEDRINE HYDROCHLORIDE [Concomitant]
     Active Substance: CETIRIZINE HYDROCHLORIDE\PSEUDOEPHEDRINE HYDROCHLORIDE
     Route: 064
  919. CETIRIZINE HYDROCHLORIDE AND PSEUDOEPHEDRINE HYDROCHLORIDE [Concomitant]
     Active Substance: CETIRIZINE HYDROCHLORIDE\PSEUDOEPHEDRINE HYDROCHLORIDE
     Route: 064
  920. CHLORHEXIDINE ACETATE [Concomitant]
     Active Substance: CHLORHEXIDINE ACETATE
     Indication: Product used for unknown indication
     Route: 064
  921. CHLORHEXIDINE ACETATE [Concomitant]
     Active Substance: CHLORHEXIDINE ACETATE
     Route: 064
  922. CHLORHEXIDINE ACETATE [Concomitant]
     Active Substance: CHLORHEXIDINE ACETATE
     Route: 064
  923. DICLOFENAC DIETHYLAMINE [Concomitant]
     Active Substance: DICLOFENAC DIETHYLAMINE
     Indication: Product used for unknown indication
     Route: 064
  924. HYDROCORTISONE BUTYRATE [Concomitant]
     Active Substance: HYDROCORTISONE BUTYRATE
     Indication: Product used for unknown indication
     Route: 064

REACTIONS (2)
  - Congenital anomaly [Unknown]
  - Foetal exposure during pregnancy [Unknown]
